FAERS Safety Report 18812254 (Version 59)
Quarter: 2023Q2

REPORT INFORMATION
  Report Type: Spontaneous
  Country: CA (occurrence: CA)
  Receive Date: 20210129
  Receipt Date: 20230428
  Transmission Date: 20230721
  Serious: Yes (Death, Life-Threatening, Hospitalization, Disabling, Other)
  Sender: FDA-Public Use
  Company Number: CA-AUROBINDO-AUR-APL-2021-002814

PATIENT
  Age: 80 Year
  Sex: Male
  Weight: 69 kg

DRUGS (509)
  1. AMIODARONE [Suspect]
     Active Substance: AMIODARONE
     Indication: Ventricular fibrillation
     Dosage: 150 MILLIGRAM, ONCE A DAY
     Route: 042
  2. AMIODARONE [Suspect]
     Active Substance: AMIODARONE
     Indication: Drug therapy
     Dosage: UNK, ONCE A DAY
     Route: 042
  3. AMIODARONE [Suspect]
     Active Substance: AMIODARONE
     Dosage: UNK
     Route: 065
  4. ALLOPURINOL [Suspect]
     Active Substance: ALLOPURINOL
     Indication: Blood uric acid increased
     Dosage: 100 MILLIGRAM, ONCE A DAY
     Route: 048
  5. ALLOPURINOL [Suspect]
     Active Substance: ALLOPURINOL
     Indication: Off label use
     Dosage: 1 DOSAGE FORM, ONCE A DAY
     Route: 048
  6. ALLOPURINOL [Suspect]
     Active Substance: ALLOPURINOL
     Indication: Intentional product misuse
  7. CEFTRIAXONE [Suspect]
     Active Substance: CEFTRIAXONE
     Indication: Bacterial infection
     Dosage: 2 GRAM, ONCE A DAY
     Route: 042
  8. CEFTRIAXONE [Suspect]
     Active Substance: CEFTRIAXONE
     Indication: Sepsis
     Dosage: 2 MILLIGRAM
     Route: 042
  9. GABAPENTIN [Suspect]
     Active Substance: GABAPENTIN
     Indication: Bacterial infection
     Dosage: 100 MILLIGRAM, ONCE A DAY
     Route: 065
  10. GABAPENTIN [Suspect]
     Active Substance: GABAPENTIN
     Indication: Neuralgia
     Dosage: 100 MILLIGRAM, ONCE A DAY
     Route: 048
  11. ONDANSETRON [Suspect]
     Active Substance: ONDANSETRON
     Indication: Vomiting
     Dosage: 4 MILLIGRAM, ONCE A DAY
     Route: 042
  12. ONDANSETRON [Suspect]
     Active Substance: ONDANSETRON
     Indication: Nausea
     Dosage: 12 MILLIGRAM, 3 TIMES A DAY
     Route: 042
  13. ONDANSETRON [Suspect]
     Active Substance: ONDANSETRON
     Dosage: 40 MILLIGRAM, 3 TIMES A DAY
     Route: 042
  14. ONDANSETRON [Suspect]
     Active Substance: ONDANSETRON
     Dosage: 36 MILLIGRAM, 3 TIMES A DAY
     Route: 042
  15. ONDANSETRON [Suspect]
     Active Substance: ONDANSETRON
     Dosage: 41.14 MILLIGRAM(41.14 MILLIGRAM, 1 IN 7 HOURS)
     Route: 042
  16. ONDANSETRON [Suspect]
     Active Substance: ONDANSETRON
     Dosage: 24 MILLIGRAM, 3 TIMES A DAY
     Route: 042
  17. ONDANSETRON [Suspect]
     Active Substance: ONDANSETRON
     Dosage: 1 DOSAGE FORM, 3 TIMES A DAY
     Route: 042
  18. ONDANSETRON [Suspect]
     Active Substance: ONDANSETRON
     Dosage: 8 MILLIGRAM, 3 TIMES A DAY
     Route: 042
  19. ONDANSETRON [Suspect]
     Active Substance: ONDANSETRON
     Dosage: 4 MILLIGRAM, 3 TIMES A DAY (12 MG ONCE A DAY)
     Route: 042
  20. ONDANSETRON [Suspect]
     Active Substance: ONDANSETRON
     Dosage: 120 MILLIGRAM, ONCE A DAY
     Route: 042
  21. ONDANSETRON [Suspect]
     Active Substance: ONDANSETRON
     Dosage: 4 MILLIGRAM, ONCE A DAY
     Route: 042
  22. ONDANSETRON [Suspect]
     Active Substance: ONDANSETRON
     Dosage: 4 MILLIGRAM, ONCE A DAY
     Route: 042
  23. ONDANSETRON [Suspect]
     Active Substance: ONDANSETRON
     Dosage: 12 MILLIGRAM, 3 TIMES A DAY
     Route: 042
  24. ONDANSETRON [Suspect]
     Active Substance: ONDANSETRON
     Dosage: 12 MILLIGRAM, 3 TIMES A DAY
     Route: 042
  25. ONDANSETRON [Suspect]
     Active Substance: ONDANSETRON
     Dosage: 12 MILLIGRAM, 3 TIMES A DAY
     Route: 042
  26. ONDANSETRON [Suspect]
     Active Substance: ONDANSETRON
     Dosage: 12 MILLIGRAM, 3 TIMES A DAY
     Route: 042
  27. ONDANSETRON [Suspect]
     Active Substance: ONDANSETRON
     Dosage: 12 MILLIGRAM, 3 TIMES A DAY
     Route: 042
  28. ONDANSETRON [Suspect]
     Active Substance: ONDANSETRON
     Dosage: 12 MILLIGRAM, 3 TIMES A DAY
     Route: 042
  29. ONDANSETRON [Suspect]
     Active Substance: ONDANSETRON
     Dosage: 12 MILLIGRAM, 3 TIMES A DAY
     Route: 042
  30. ONDANSETRON [Suspect]
     Active Substance: ONDANSETRON
     Dosage: 12 MILLIGRAM, 3 TIMES A DAY
     Route: 042
  31. ONDANSETRON [Suspect]
     Active Substance: ONDANSETRON
     Dosage: 40 MILLIGRAM, 3 TIMES A DAY
     Route: 042
  32. ONDANSETRON [Suspect]
     Active Substance: ONDANSETRON
     Dosage: 40 MILLIGRAM, 3 TIMES A DAY
     Route: 042
  33. ONDANSETRON [Suspect]
     Active Substance: ONDANSETRON
     Dosage: 36 MILLIGRAM, 3 TIMES A DAY
     Route: 042
  34. ONDANSETRON [Suspect]
     Active Substance: ONDANSETRON
     Dosage: 36 MILLIGRAM, 3 TIMES A DAY
     Route: 042
  35. ONDANSETRON [Suspect]
     Active Substance: ONDANSETRON
     Dosage: 41.14 MILLIGRAM(41.14 MILLIGRAM, 1 IN 7 HOURS)
     Route: 042
  36. ONDANSETRON [Suspect]
     Active Substance: ONDANSETRON
     Dosage: 41.14 MILLIGRAM, 3 TIMES A DAY ((41.14 MILLIGRAM, 1 IN 7 HOURS))
     Route: 042
  37. ONDANSETRON [Suspect]
     Active Substance: ONDANSETRON
     Dosage: 41.14 MILLIGRAM (41.14 MILLIGRAM, 1 IN 7 HOURS)
     Route: 042
  38. ONDANSETRON [Suspect]
     Active Substance: ONDANSETRON
     Dosage: 24 MILLIGRAM, 3 TIMES A DAY
     Route: 042
  39. ONDANSETRON [Suspect]
     Active Substance: ONDANSETRON
     Dosage: 1 DOSAGE FORM
     Route: 042
  40. ONDANSETRON [Suspect]
     Active Substance: ONDANSETRON
     Dosage: 1 DOSAGE FORM
     Route: 042
  41. ONDANSETRON [Suspect]
     Active Substance: ONDANSETRON
     Dosage: 4 MILLIGRAM, 3 TIMES A DAY
     Route: 042
  42. ONDANSETRON [Suspect]
     Active Substance: ONDANSETRON
     Dosage: UNK
     Route: 065
  43. ONDANSETRON [Suspect]
     Active Substance: ONDANSETRON
     Indication: Nausea
     Dosage: 4 MILLIGRAM, 3 TIMES A DAY
     Route: 042
  44. ONDANSETRON [Suspect]
     Active Substance: ONDANSETRON
     Indication: Vomiting
     Dosage: 12 MILLIGRAM, 3 TIMES A DAY
     Route: 042
  45. ONDANSETRON [Suspect]
     Active Substance: ONDANSETRON
     Dosage: 36 MILLIGRAM, 3 TIMES A DAY
     Route: 042
  46. ONDANSETRON [Suspect]
     Active Substance: ONDANSETRON
     Dosage: 41.14 MILLIGRAM, , 1 IN 7 HOURS   UNK
     Route: 042
  47. ONDANSETRON [Suspect]
     Active Substance: ONDANSETRON
     Dosage: 406 MILLIGRAM, 3 TIMES A DAY
     Route: 042
  48. ONDANSETRON [Suspect]
     Active Substance: ONDANSETRON
     Dosage: 40 MILLIGRAM PER 8 HOURS
     Route: 065
  49. ONDANSETRON [Suspect]
     Active Substance: ONDANSETRON
     Dosage: 8 MILLIGRAM, 3 TIMES A DAY
     Route: 065
  50. ONDANSETRON [Suspect]
     Active Substance: ONDANSETRON
     Dosage: 4 MILLIGRAM, ONCE A DAY
     Route: 065
  51. SIMVASTATIN [Suspect]
     Active Substance: SIMVASTATIN
     Indication: Blood cholesterol increased
     Dosage: 40 MILLIGRAM, ONCE A DAY
     Route: 048
  52. SIMVASTATIN [Suspect]
     Active Substance: SIMVASTATIN
     Indication: Vitamin supplementation
     Dosage: 40 MILLIGRAM, ONCE A DAY
     Route: 065
  53. SIMVASTATIN [Suspect]
     Active Substance: SIMVASTATIN
     Indication: Thrombosis
     Dosage: UNK
     Route: 065
  54. SIMVASTATIN [Suspect]
     Active Substance: SIMVASTATIN
     Indication: Off label use
  55. SIMVASTATIN [Suspect]
     Active Substance: SIMVASTATIN
     Indication: Intentional product misuse
  56. ACETAMINOPHEN [Suspect]
     Active Substance: ACETAMINOPHEN
     Indication: Analgesic therapy
     Dosage: 650 MILLIGRAM, ONCE A DAY
     Route: 048
  57. ACETAMINOPHEN [Suspect]
     Active Substance: ACETAMINOPHEN
     Dosage: 650 MILLIGRAM, ONCE A DAY
     Route: 048
  58. ACETAMINOPHEN [Suspect]
     Active Substance: ACETAMINOPHEN
     Dosage: 650 MILLIGRAM, ONCE A DAY
     Route: 048
  59. ACETAMINOPHEN [Suspect]
     Active Substance: ACETAMINOPHEN
     Dosage: 5 MILLIGRAM, ONCE A DAY
     Route: 042
  60. ALLANTOIN [Suspect]
     Active Substance: ALLANTOIN
     Indication: Constipation
     Dosage: 17 GRAM, ONCE A DAY
     Route: 048
  61. HOMEOPATHICS [Suspect]
     Active Substance: ARNICA MONTANA\CAUSTICUM\COMFREY ROOT\HOMEOPATHICS\LEDUM PALUSTRE TWIG\PSEUDOGNAPHALIUM OBTUSIFOLIUM
     Indication: Product used for unknown indication
     Dosage: 17 GRAM, ONCE A DAY(17 GRAM, QD)
     Route: 048
  62. AMINOBENZOIC ACID [Suspect]
     Active Substance: AMINOBENZOIC ACID
     Indication: Product used for unknown indication
     Dosage: 12.5 MILLIGRAM
     Route: 065
  63. ALLOPURINOL [Suspect]
     Active Substance: ALLOPURINOL
     Indication: Blood uric acid increased
     Dosage: 1 DOSAGE FORM, ONCE A DAY
     Route: 048
  64. ALLOPURINOL [Suspect]
     Active Substance: ALLOPURINOL
     Indication: Intentional product misuse
     Dosage: 100 MILLIGRAM, ONCE A DAY
     Route: 048
  65. ALLOPURINOL [Suspect]
     Active Substance: ALLOPURINOL
     Dosage: 1 DOSAGE FORM
     Route: 048
  66. ALLOPURINOL [Suspect]
     Active Substance: ALLOPURINOL
     Dosage: 1 DOSAGE FORM
     Route: 048
  67. ALLOPURINOL [Suspect]
     Active Substance: ALLOPURINOL
     Dosage: 1 DOSAGE FORM
     Route: 048
  68. ALLOPURINOL [Suspect]
     Active Substance: ALLOPURINOL
     Dosage: 100 MILLIGRAM
     Route: 048
  69. AMMONIUM CHLORIDE [Suspect]
     Active Substance: AMMONIUM CHLORIDE
     Indication: Thrombosis
     Dosage: 2.5 MILLILITER,PRN
     Route: 048
  70. AMMONIUM CHLORIDE [Suspect]
     Active Substance: AMMONIUM CHLORIDE
     Dosage: 2.5 MILLILITER, AS NECESSARY
     Route: 048
  71. ANTICOAGULANT SODIUM CITRATE [Suspect]
     Active Substance: SODIUM CITRATE
     Indication: Thrombosis
     Dosage: 2.5 MILLILITER, AS REQUIRED
     Route: 065
  72. ANTICOAGULANT SODIUM CITRATE [Suspect]
     Active Substance: SODIUM CITRATE
     Dosage: UNK MILLILITER, ONCE A DAY
     Route: 065
  73. ATROVENT [Suspect]
     Active Substance: IPRATROPIUM BROMIDE
     Indication: Dyspnoea
     Dosage: UNK, ONCE A DAY
  74. ATROVENT [Suspect]
     Active Substance: IPRATROPIUM BROMIDE
     Indication: Sleep disorder therapy
     Dosage: 1 DOSAGE FORM, FOUR TIMES/DAY
  75. ATROVENT [Suspect]
     Active Substance: IPRATROPIUM BROMIDE
     Dosage: 1 DOSAGE FORM, FOUR TIMES/DAY
     Route: 050
  76. ATROVENT [Suspect]
     Active Substance: IPRATROPIUM BROMIDE
     Dosage: 1 DOSAGE FORM, 3 TIMES A DAY
     Route: 050
  77. ATROVENT [Suspect]
     Active Substance: IPRATROPIUM BROMIDE
     Dosage: 1 HOUR
     Route: 055
  78. ATROVENT [Suspect]
     Active Substance: IPRATROPIUM BROMIDE
     Dosage: UNK
     Route: 055
  79. ARANESP [Suspect]
     Active Substance: DARBEPOETIN ALFA
     Indication: Anaemia
     Dosage: 0.71 MICROGRAM, EVERY WEEK
     Route: 042
  80. ARANESP [Suspect]
     Active Substance: DARBEPOETIN ALFA
     Dosage: 0.71 MICROGRAM, EVERY WEEK
     Route: 042
  81. ARANESP [Suspect]
     Active Substance: DARBEPOETIN ALFA
     Dosage: 0.71 MICROGRAM, 1 EVERY 2 WEEKS
     Route: 042
  82. ARANESP [Suspect]
     Active Substance: DARBEPOETIN ALFA
     Dosage: 0.71 MICROGRAM, 1 EVERY 2 WEEKS
     Route: 042
  83. ARANESP [Suspect]
     Active Substance: DARBEPOETIN ALFA
     Dosage: 0.2 MILLIGRAM, EVERY WEEK
     Route: 042
  84. ARANESP [Suspect]
     Active Substance: DARBEPOETIN ALFA
     Dosage: 10 MICROGRAM
     Route: 042
  85. ARANESP [Suspect]
     Active Substance: DARBEPOETIN ALFA
     Dosage: 10 MICROGRAM,1 EVERY 2 WEEKS
     Route: 042
  86. ARANESP [Suspect]
     Active Substance: DARBEPOETIN ALFA
     Dosage: 10 MICROGRAM,1 EVERY 2 WEEKS
     Route: 042
  87. ARANESP [Suspect]
     Active Substance: DARBEPOETIN ALFA
     Dosage: 1.42 MICROGRAM,1 EVERY 2 WEEKS
     Route: 042
  88. ARANESP [Suspect]
     Active Substance: DARBEPOETIN ALFA
     Dosage: 20 MILLIGRAM, EVERY WEEK
     Route: 042
  89. ARANESP [Suspect]
     Active Substance: DARBEPOETIN ALFA
     Dosage: 10 MILLIGRAM
     Route: 042
  90. ARANESP [Suspect]
     Active Substance: DARBEPOETIN ALFA
     Dosage: 10 MILLIGRAM
     Route: 042
  91. ARANESP [Suspect]
     Active Substance: DARBEPOETIN ALFA
     Dosage: 10 MILLIGRAM
     Route: 042
  92. ARANESP [Suspect]
     Active Substance: DARBEPOETIN ALFA
     Dosage: 10 MILLIGRAM,1 EVERY 2 WEEKS
     Route: 042
  93. ASCORBIC ACID [Suspect]
     Active Substance: ASCORBIC ACID
     Indication: Constipation
     Dosage: 17 GRAM, ONCE A DAY
     Route: 048
  94. ASCORBIC ACID [Suspect]
     Active Substance: ASCORBIC ACID
     Indication: Vitamin supplementation
     Dosage: UNK
     Route: 065
  95. ELECTROLYTES NOS\POLYETHYLENE GLYCOL 3350 [Suspect]
     Active Substance: ELECTROLYTES NOS\POLYETHYLENE GLYCOL 3350
     Indication: Constipation
     Dosage: 17 MILLIGRAM, ONCE A DAY
     Route: 048
  96. AMIODARONE HYDROCHLORIDE [Suspect]
     Active Substance: AMIODARONE HYDROCHLORIDE
     Indication: Ventricular fibrillation
     Dosage: UNK, ONCE A DAY
     Route: 042
  97. .BETA.-CAROTENE [Suspect]
     Active Substance: .BETA.-CAROTENE
     Indication: Nutritional supplementation
     Dosage: 12.5 MILLIGRAM, PRN
     Route: 042
  98. .BETA.-CAROTENE [Suspect]
     Active Substance: .BETA.-CAROTENE
     Dosage: 12.5 GRAM, AS NECESSARY (12.5 G, PRN)
     Route: 042
  99. BETAMETHASONE [Suspect]
     Active Substance: BETAMETHASONE
     Indication: Swelling
     Dosage: UNK, CYCLICAL AS NECESSARY
     Route: 061
  100. BETAMETHASONE [Suspect]
     Active Substance: BETAMETHASONE
     Indication: Ventricular fibrillation
     Dosage: 1 DOSAGE FORM
     Route: 061
  101. BETAMETHASONE [Suspect]
     Active Substance: BETAMETHASONE
     Indication: Constipation
     Dosage: 10 MILLIGRAM
     Route: 054
  102. BETAMETHASONE [Suspect]
     Active Substance: BETAMETHASONE
     Indication: Drug therapy
     Dosage: 10 MILLIGRAM
     Route: 065
  103. BETAMETHASONE [Suspect]
     Active Substance: BETAMETHASONE
     Dosage: 10 MILLIGRAM, ONCE A DAY
     Route: 054
  104. BETAMETHASONE [Suspect]
     Active Substance: BETAMETHASONE
     Dosage: 10 MILLIGRAM
     Route: 042
  105. BETAMETHASONE [Suspect]
     Active Substance: BETAMETHASONE
     Dosage: 10 MILLIGRAM, 1 AS NECESSARY
     Route: 042
  106. BETAMETHASONE [Suspect]
     Active Substance: BETAMETHASONE
     Dosage: UNK
     Route: 065
  107. BETAMETHASONE [Suspect]
     Active Substance: BETAMETHASONE
     Dosage: UNK
     Route: 061
  108. BETAMETHASONE [Suspect]
     Active Substance: BETAMETHASONE
     Dosage: UNK
     Route: 061
  109. BETAMETHASONE [Suspect]
     Active Substance: BETAMETHASONE
     Dosage: UNK
     Route: 061
  110. BETAMETHASONE [Suspect]
     Active Substance: BETAMETHASONE
     Dosage: UNK
     Route: 061
  111. MINERALS\VITAMINS [Suspect]
     Active Substance: MINERALS\VITAMINS
     Indication: Product used for unknown indication
     Dosage: 5 MILLIGRAM, ONCE A DAY
     Route: 065
  112. BISMUTH SUBNITRATE [Suspect]
     Active Substance: BISMUTH SUBNITRATE
     Indication: Constipation
     Dosage: 133 MILLILITER, AS NECESSARY
     Route: 065
  113. BISACODYL [Suspect]
     Active Substance: BISACODYL
     Indication: Constipation
     Dosage: 10 MILLIGRAM, AS NECESSARY
     Route: 054
  114. BISACODYL [Suspect]
     Active Substance: BISACODYL
     Indication: Ventricular fibrillation
     Dosage: 10 MILLIGRAM, ONCE A DAY,PRN
     Route: 042
  115. BISACODYL [Suspect]
     Active Substance: BISACODYL
     Indication: Drug therapy
     Dosage: 10 MILLIGRAM, PRN
     Route: 065
  116. BISACODYL [Suspect]
     Active Substance: BISACODYL
     Dosage: 10 MILLIGRAM, ONCE A DAY
     Route: 054
  117. BISMUTH SUBGALLATE\BUFEXAMAC\LIDOCAINE HYDROCHLORIDE\TITANIUM DIOXIDE [Suspect]
     Active Substance: BISMUTH SUBGALLATE\BUFEXAMAC\LIDOCAINE HYDROCHLORIDE\TITANIUM DIOXIDE
     Indication: Constipation
     Dosage: 133 MILLILITER, PRN
     Route: 054
  118. BIOTIN [Suspect]
     Active Substance: BIOTIN
     Indication: Product used for unknown indication
     Dosage: UNK
     Route: 065
  119. UNSPECIFIED INGREDIENT [Suspect]
     Active Substance: UNSPECIFIED INGREDIENT
     Indication: Dyspnoea
     Dosage: 1 INTERNATIONAL UNIT
     Route: 048
  120. CALCIUM CARBONATE\ERGOCALCIFEROL\RETINOL [Suspect]
     Active Substance: CALCIUM CARBONATE\ERGOCALCIFEROL\RETINOL
     Indication: Vitamin D
     Dosage: 0.25 MICROGRAM, ONCE A DAY
     Route: 048
  121. CALCIUM CARBONATE\ERGOCALCIFEROL\RETINOL [Suspect]
     Active Substance: CALCIUM CARBONATE\ERGOCALCIFEROL\RETINOL
     Dosage: 0.25 MILLIGRAM, ONCE A DAY
     Route: 048
  122. CALCIUM CARBONATE\ERGOCALCIFEROL\RETINOL [Suspect]
     Active Substance: CALCIUM CARBONATE\ERGOCALCIFEROL\RETINOL
     Dosage: 500 MILLIGRAM, 3 TIMES A DAY
     Route: 048
  123. CALCITRIOL [Suspect]
     Active Substance: CALCITRIOL
     Indication: Vitamin D
     Dosage: 0.25 MICROGRAM, ONCE A DAY
     Route: 065
  124. CALCITRIOL [Suspect]
     Active Substance: CALCITRIOL
     Dosage: 500 MILLIGRAM, 3 TIMES A DAY
     Route: 065
  125. HERBALS [Suspect]
     Active Substance: HERBALS
     Indication: Nutritional supplementation
     Dosage: 12.5 MILLIGRAM
     Route: 042
  126. CHLORAMPHENICOL\HYDROCORTISONE [Suspect]
     Active Substance: CHLORAMPHENICOL\HYDROCORTISONE
     Indication: Bacterial infection
     Dosage: 1500 MILLIGRAM
     Route: 065
  127. CHLORAMPHENICOL\HYDROCORTISONE [Suspect]
     Active Substance: CHLORAMPHENICOL\HYDROCORTISONE
     Dosage: 500 MILLIGRAM,1 EVERY 8 HOURS
     Route: 065
  128. CALCITRIOL [Suspect]
     Active Substance: CALCITRIOL
     Indication: Product used for unknown indication
     Dosage: 0.25 MICROGRAM, ONCE A DAY
     Route: 048
  129. HERBALS [Suspect]
     Active Substance: HERBALS
     Indication: Nutritional supplementation
     Dosage: 12.5 GRAM (12.5 GRAM, PRN)
     Route: 042
  130. DALTEPARIN SODIUM [Suspect]
     Active Substance: DALTEPARIN SODIUM
     Indication: Pulmonary embolism
     Dosage: 2.5 MILLILITER
     Route: 065
  131. DALTEPARIN SODIUM [Suspect]
     Active Substance: DALTEPARIN SODIUM
     Indication: Thrombosis
     Dosage: 12.5 MILLIGRAM
     Route: 042
  132. DEXTROSE [Suspect]
     Active Substance: DEXTROSE\DEXTROSE MONOHYDRATE
     Indication: Nutritional supplementation
     Dosage: 12.5 GRAM, ONCE A DAY,AS REQUIRED
     Route: 042
  133. DEXTROSE [Suspect]
     Active Substance: DEXTROSE\DEXTROSE MONOHYDRATE
     Dosage: 12.5 MILLIGRAM, ONCE A DAY
     Route: 065
  134. DEXTROSE [Suspect]
     Active Substance: DEXTROSE\DEXTROSE MONOHYDRATE
     Dosage: 12.5 GRAM,
     Route: 042
  135. RINGERS AND DEXTROSE SOLUTION [Suspect]
     Active Substance: CALCIUM CHLORIDE\DEXTROSE\POTASSIUM CHLORIDE\SODIUM CHLORIDE
     Indication: Nutritional supplementation
     Dosage: 12.5 MILLIGRAM
     Route: 042
  136. RINGERS AND DEXTROSE SOLUTION [Suspect]
     Active Substance: CALCIUM CHLORIDE\DEXTROSE\POTASSIUM CHLORIDE\SODIUM CHLORIDE
     Dosage: UNK
     Route: 065
  137. DEXLANSOPRAZOLE [Suspect]
     Active Substance: DEXLANSOPRAZOLE
     Indication: Product used for unknown indication
     Dosage: UNK
     Route: 065
  138. .ALPHA.-TOCOPHEROL, DL- [Suspect]
     Active Substance: .ALPHA.-TOCOPHEROL, DL-
     Indication: Nutritional supplementation
     Dosage: 12.5 GRAM
     Route: 042
  139. .ALPHA.-TOCOPHEROL, DL- [Suspect]
     Active Substance: .ALPHA.-TOCOPHEROL, DL-
     Dosage: 5 GRAM
     Route: 065
  140. DIPROSONE [Suspect]
     Active Substance: BETAMETHASONE DIPROPIONATE
     Indication: Swelling
     Dosage: UNK, AS REQUIRED
     Route: 061
  141. DIPROSONE [Suspect]
     Active Substance: BETAMETHASONE DIPROPIONATE
     Dosage: 10 MILLIGRAM, AS NECESSARY
     Route: 061
  142. DIPROSONE [Suspect]
     Active Substance: BETAMETHASONE DIPROPIONATE
     Dosage: 1 DOSAGE FORM, AS NECESSARY
     Route: 061
  143. DISTIGMINE BROMIDE [Suspect]
     Active Substance: DISTIGMINE BROMIDE
     Indication: Dyspnoea
     Dosage: 1 INTERNATIONAL UNIT, ONCE A DAY
     Route: 048
  144. DISTIGMINE BROMIDE [Suspect]
     Active Substance: DISTIGMINE BROMIDE
     Dosage: 1 INTERNATIONAL UNIT, ONCE A DAY
     Route: 048
  145. DISTIGMINE BROMIDE [Suspect]
     Active Substance: DISTIGMINE BROMIDE
     Dosage: 1 INTERNATIONAL UNIT, ONCE A DAY
     Route: 048
  146. DISTIGMINE BROMIDE [Suspect]
     Active Substance: DISTIGMINE BROMIDE
     Dosage: 1 INTERNATIONAL UNIT, ONCE A DAY
     Route: 048
  147. DOBUTAMINE [Suspect]
     Active Substance: DOBUTAMINE HYDROCHLORIDE
     Indication: Cardiogenic shock
     Dosage: UNK
     Route: 042
  148. DOBUTAMINE [Suspect]
     Active Substance: DOBUTAMINE HYDROCHLORIDE
     Dosage: UNK
     Route: 065
  149. DOBUTAMINE [Suspect]
     Active Substance: DOBUTAMINE HYDROCHLORIDE
     Dosage: UNK
     Route: 042
  150. DOBUTAMINE [Suspect]
     Active Substance: DOBUTAMINE HYDROCHLORIDE
     Dosage: UNK
     Route: 042
  151. DOBUTAMINE [Suspect]
     Active Substance: DOBUTAMINE HYDROCHLORIDE
     Dosage: UNK
     Route: 042
  152. DOBUTAMINE [Suspect]
     Active Substance: DOBUTAMINE HYDROCHLORIDE
     Dosage: UNK
     Route: 042
  153. DOBUTAMINE [Suspect]
     Active Substance: DOBUTAMINE HYDROCHLORIDE
     Dosage: UNK
     Route: 065
  154. DOBUTAMINE [Suspect]
     Active Substance: DOBUTAMINE HYDROCHLORIDE
     Dosage: UNK
     Route: 065
  155. DOCUSATE SODIUM [Suspect]
     Active Substance: DOCUSATE SODIUM
     Indication: Vitamin supplementation
     Dosage: 5 MILLIGRAM
     Route: 017
  156. DOCUSATE SODIUM [Suspect]
     Active Substance: DOCUSATE SODIUM
     Dosage: 5 MILLIGRAM, ONCE A DAY
     Route: 042
  157. DULCOLAX NOS [Suspect]
     Active Substance: BISACODYL OR DOCUSATE SODIUM
     Indication: Constipation
     Dosage: 10 MILLIGRAM, AS NECESSARY
     Route: 054
  158. DULCOLAX NOS [Suspect]
     Active Substance: BISACODYL OR DOCUSATE SODIUM
     Dosage: 10 MILLIGRAM, ONCE A DAY
     Route: 054
  159. DULCOLAX NOS [Suspect]
     Active Substance: BISACODYL OR DOCUSATE SODIUM
     Dosage: UNK
     Route: 065
  160. BETAMETHASONE DIPROPIONATE\CLIOQUINOL [Suspect]
     Active Substance: BETAMETHASONE DIPROPIONATE\CLIOQUINOL
     Indication: Swelling
     Dosage: UNK, ONCE A DAY
     Route: 061
  161. DIPYRONE [Suspect]
     Active Substance: DIPYRONE
     Indication: Vitamin supplementation
     Dosage: UNK
     Route: 042
  162. DIPYRONE [Suspect]
     Active Substance: DIPYRONE
     Dosage: 5 MILLIGRAM, ONCE A DAY
     Route: 042
  163. DIPYRONE [Suspect]
     Active Substance: DIPYRONE
     Dosage: 5 MILLIGRAM
     Route: 042
  164. DEXILANT [Suspect]
     Active Substance: DEXLANSOPRAZOLE
     Indication: Product used for unknown indication
     Dosage: 60 MILLIGRAM, ONCE A DAY
     Route: 048
     Dates: start: 20210605, end: 20210606
  165. DEXILANT [Suspect]
     Active Substance: DEXLANSOPRAZOLE
     Dosage: UNK
     Route: 065
     Dates: start: 20210605
  166. FENOTEROL\IPRATROPIUM BROMIDE [Suspect]
     Active Substance: FENOTEROL\IPRATROPIUM BROMIDE
     Indication: Dyspnoea
     Dosage: 1 DOSAGE FORM, 3 TIMES A DAY
     Route: 050
  167. FENOTEROL\IPRATROPIUM BROMIDE [Suspect]
     Active Substance: FENOTEROL\IPRATROPIUM BROMIDE
     Dosage: 3 DOSAGE FORM, ONCE A DAY
     Route: 050
  168. FENOTEROL\IPRATROPIUM BROMIDE [Suspect]
     Active Substance: FENOTEROL\IPRATROPIUM BROMIDE
     Dosage: 4 INTERNATIONAL UNIT, ONCE A DAY
     Route: 065
  169. FENOTEROL\IPRATROPIUM BROMIDE [Suspect]
     Active Substance: FENOTEROL\IPRATROPIUM BROMIDE
     Dosage: 1 DOSAGE FORM, ONCE A DAY
     Route: 065
  170. SODIUM FERRIC GLUCONATE COMPLEX [Suspect]
     Active Substance: SODIUM FERRIC GLUCONATE COMPLEX
     Indication: Iron deficiency
     Dosage: 125 MILLIGRAM, 4 IN A WEEK (125 MILLIGRAM, Q4WEEKS, 125 MILLIGRAM, 1/WEEK)
     Route: 042
  171. SODIUM FERRIC GLUCONATE COMPLEX [Suspect]
     Active Substance: SODIUM FERRIC GLUCONATE COMPLEX
     Dosage: 4.64 MILLIGRAM, 4 WEEK (4.64 MILLIGRAM, Q4WEEKS)
     Route: 042
  172. SODIUM FERRIC GLUCONATE COMPLEX [Suspect]
     Active Substance: SODIUM FERRIC GLUCONATE COMPLEX
     Dosage: 17.85 MILLIGRAM, EVERY WEEK (17.85 MG, 1/WEEK)
     Route: 042
  173. SODIUM FERRIC GLUCONATE COMPLEX [Suspect]
     Active Substance: SODIUM FERRIC GLUCONATE COMPLEX
     Dosage: UNK
     Route: 065
  174. SODIUM FERRIC GLUCONATE COMPLEX [Suspect]
     Active Substance: SODIUM FERRIC GLUCONATE COMPLEX
     Dosage: 1.25 MILLIGRAM,4 WEEK(125 MILLIGRAM, 1/WEEK )
     Route: 042
  175. SODIUM FERRIC GLUCONATE COMPLEX [Suspect]
     Active Substance: SODIUM FERRIC GLUCONATE COMPLEX
     Dosage: 125 MILLIGRAM, ONCE A DAY
     Route: 042
  176. FERRLECIT [Suspect]
     Active Substance: SODIUM FERRIC GLUCONATE COMPLEX
     Indication: Iron deficiency
     Dosage: 17.85 MILLIGRAM EVERY WEEK
     Route: 065
  177. FERRLECIT [Suspect]
     Active Substance: SODIUM FERRIC GLUCONATE COMPLEX
     Dosage: 4.64 MILLIGRAM EVERY 4 WEEKS
     Route: 065
  178. FERRLECIT [Suspect]
     Active Substance: SODIUM FERRIC GLUCONATE COMPLEX
     Dosage: 125 MILLIGRAM EVERY 4 WEEKS
     Route: 065
  179. FLUTICASONE FUROATE [Suspect]
     Active Substance: FLUTICASONE FUROATE
     Indication: Nutritional supplementation
     Dosage: 1 INTERNATIONAL UNIT
     Route: 065
  180. FLUTICASONE FUROATE [Suspect]
     Active Substance: FLUTICASONE FUROATE
     Indication: Dyspnoea
  181. FLUTICASONE FUROATE\VILANTEROL TRIFENATATE [Suspect]
     Active Substance: FLUTICASONE FUROATE\VILANTEROL TRIFENATATE
     Indication: Dyspnoea
     Dosage: 1 INTERNATIONAL UNIT, ONCE A DAY
     Route: 048
  182. FLUTICASONE FUROATE\VILANTEROL TRIFENATATE [Suspect]
     Active Substance: FLUTICASONE FUROATE\VILANTEROL TRIFENATATE
     Indication: Nutritional supplementation
     Dosage: UNK
     Route: 058
  183. FLUTICASONE FUROATE\VILANTEROL TRIFENATATE [Suspect]
     Active Substance: FLUTICASONE FUROATE\VILANTEROL TRIFENATATE
     Indication: Intentional product misuse
  184. FLUTICASONE FUROATE\VILANTEROL TRIFENATATE [Suspect]
     Active Substance: FLUTICASONE FUROATE\VILANTEROL TRIFENATATE
     Indication: Off label use
  185. FLUTICASONE PROPIONATE\SALMETEROL XINAFOATE [Suspect]
     Active Substance: FLUTICASONE PROPIONATE\SALMETEROL XINAFOATE
     Indication: Nutritional supplementation
     Dosage: 1 INTERNATIONAL UNIT
     Route: 048
  186. FURAZOLIDONE [Suspect]
     Active Substance: FURAZOLIDONE
     Indication: Product used for unknown indication
     Dosage: 1.25 MILLIGRAM, ONCE A DAY
     Route: 042
  187. FOSRENOL [Suspect]
     Active Substance: LANTHANUM CARBONATE
     Indication: Blood phosphorus increased
     Dosage: 500 MILLIGRAM, AS NECESSARY
     Route: 048
  188. FOSRENOL [Suspect]
     Active Substance: LANTHANUM CARBONATE
     Indication: Hyperphosphataemia
     Dosage: 500 MILLIGRAM, ONCE A DAY
     Route: 048
  189. FOSRENOL [Suspect]
     Active Substance: LANTHANUM CARBONATE
     Dosage: 500 MILLIGRAM
     Route: 048
  190. FOSRENOL [Suspect]
     Active Substance: LANTHANUM CARBONATE
     Dosage: UNK
  191. FERROUS SUCCINATE [Suspect]
     Active Substance: FERROUS SUCCINATE
     Indication: Iron deficiency
     Dosage: UNK UNK, 3 TIMES A DAY
     Route: 042
  192. FERROUS SUCCINATE [Suspect]
     Active Substance: FERROUS SUCCINATE
     Dosage: UNK, FOUR TIMES/DAY
     Route: 065
  193. FRAGMIN [Suspect]
     Active Substance: DALTEPARIN SODIUM
     Indication: Pulmonary embolism
     Dosage: 2.5 MILLILITER, 1 AS NECESSARY
     Route: 065
  194. FRAGMIN [Suspect]
     Active Substance: DALTEPARIN SODIUM
     Indication: Thrombosis
     Dosage: UNK
     Route: 048
  195. FIASP [Suspect]
     Active Substance: INSULIN ASPART
     Indication: Diabetes mellitus
     Dosage: UNK
     Route: 058
  196. FIASP [Suspect]
     Active Substance: INSULIN ASPART
     Dosage: UNK
     Route: 048
  197. PSYLLIUM HUSK [Suspect]
     Active Substance: PSYLLIUM HUSK
     Indication: Product used for unknown indication
     Dosage: 5 MILLIGRAM, ONCE A DAY
     Route: 042
  198. DEXTROSE [Suspect]
     Active Substance: DEXTROSE\DEXTROSE MONOHYDRATE
     Indication: Nutritional supplementation
     Dosage: 12.5 GRAM, AS NECESSARY
     Route: 042
  199. DEXTROSE [Suspect]
     Active Substance: DEXTROSE\DEXTROSE MONOHYDRATE
     Dosage: 12.5 MILLIGRAM, ONCE A DAY ( 12.5 G DEXTROSE AS NECESSARY)
     Route: 042
  200. DEXTROSE [Suspect]
     Active Substance: DEXTROSE\DEXTROSE MONOHYDRATE
     Dosage: 12.5 GRAM, ONCE A DAY
     Route: 065
  201. DEXTROSE [Suspect]
     Active Substance: DEXTROSE\DEXTROSE MONOHYDRATE
     Dosage: UNK
     Route: 065
  202. CALCIUM\VITAMIN D [Suspect]
     Active Substance: CALCIUM\VITAMIN D
     Indication: Product used for unknown indication
     Dosage: UNK
     Route: 065
  203. DEXTROSE\SODIUM CHLORIDE [Suspect]
     Active Substance: DEXTROSE\SODIUM CHLORIDE
     Indication: Nutritional supplementation
     Dosage: 12.5 GRAM, ONCE A DAY
     Route: 042
  204. DEXTROSE\SODIUM CHLORIDE [Suspect]
     Active Substance: DEXTROSE\SODIUM CHLORIDE
     Dosage: 12.5 MILLIGRAM, AS NECESSARY
     Route: 065
  205. DEXTROSE\SODIUM CHLORIDE [Suspect]
     Active Substance: DEXTROSE\SODIUM CHLORIDE
     Dosage: 12.5 MILLIGRAM
     Route: 065
  206. DISODIUM HYDROGEN CITRATE [Suspect]
     Active Substance: DISODIUM HYDROGEN CITRATE
     Indication: Thrombosis
     Dosage: 2.5 MILLILITER, PRN(AS NECESSARY)
     Route: 065
  207. DISODIUM HYDROGEN CITRATE [Suspect]
     Active Substance: DISODIUM HYDROGEN CITRATE
     Indication: Anticoagulant therapy
     Dosage: UNK
     Route: 065
  208. DARBEPOETIN ALFA [Suspect]
     Active Substance: DARBEPOETIN ALFA
     Indication: Anaemia
     Dosage: 10 MILLIGRAM PER 2 DAY
     Route: 065
  209. DARBEPOETIN ALFA [Suspect]
     Active Substance: DARBEPOETIN ALFA
     Dosage: 0.71 MICROGRAM PER 2 DAY
     Route: 065
  210. HEPARIN CALCIUM [Suspect]
     Active Substance: HEPARIN CALCIUM
     Indication: Anticoagulant therapy
     Dosage: 50 MILLILITER, AS NECESSARY
     Route: 042
  211. HEPARIN SODIUM [Suspect]
     Active Substance: HEPARIN SODIUM
     Indication: Anticoagulant therapy
     Dosage: 50 MILLILITER, ONCE A DAY
     Route: 042
  212. HEPARIN SODIUM [Suspect]
     Active Substance: HEPARIN SODIUM
     Dosage: 250 MILLILITER, CYCLICAL (AS NECESSARY)
     Route: 042
  213. HEPARIN SODIUM [Suspect]
     Active Substance: HEPARIN SODIUM
     Dosage: 250 MILLILITER,
     Route: 042
  214. HEPARIN SODIUM [Suspect]
     Active Substance: HEPARIN SODIUM
     Dosage: 50 MILLILITER,
     Route: 042
  215. UNSPECIFIED INGREDIENT [Suspect]
     Active Substance: UNSPECIFIED INGREDIENT
     Indication: Anticoagulant therapy
     Dosage: 250 MILLILITER, ONCE A DAY
     Route: 042
  216. UNSPECIFIED INGREDIENT [Suspect]
     Active Substance: UNSPECIFIED INGREDIENT
     Dosage: 50 MILLILITER, ONCE A DAY
     Route: 042
  217. HEPARIN SODIUM\SODIUM CHLORIDE [Suspect]
     Active Substance: HEPARIN SODIUM\SODIUM CHLORIDE
     Indication: Anticoagulant therapy
     Dosage: 250 MILLILITER, AS REQUIRED
     Route: 042
  218. HEPARIN SODIUM IN DEXTROSE [Suspect]
     Active Substance: HEPARIN SODIUM
     Indication: Anticoagulant therapy
     Dosage: 250 MILLILITER (250 ML, CYCLIC, AS NECESSARY ), ONCE A DAY
     Route: 042
  219. HEPARIN SODIUM IN DEXTROSE [Suspect]
     Active Substance: HEPARIN SODIUM
     Dosage: 50 MILLILITER, ONCE A DAY
     Route: 042
  220. HEPARIN SODIUM IN DEXTROSE [Suspect]
     Active Substance: HEPARIN SODIUM
     Dosage: 50 MILLILITER, PRN
     Route: 042
  221. HORSE CHESTNUT [Suspect]
     Active Substance: HORSE CHESTNUT
     Indication: Product used for unknown indication
     Dosage: UNK
     Route: 065
  222. HYDROMORPHONE HYDROCHLORIDE [Suspect]
     Active Substance: HYDROMORPHONE HYDROCHLORIDE
     Indication: Analgesic therapy
     Dosage: 1 MILLIGRAM, EVERY FOUR HOUR
     Route: 058
  223. HYDROMORPHONE HYDROCHLORIDE [Suspect]
     Active Substance: HYDROMORPHONE HYDROCHLORIDE
     Dosage: 6 MILLIGRAM, FOUR TIMES/DAY
     Route: 058
  224. HYDROMORPHONE HYDROCHLORIDE [Suspect]
     Active Substance: HYDROMORPHONE HYDROCHLORIDE
     Dosage: 1 MILLIGRAM, ONCE A DAY
     Route: 058
  225. HYDROMORPHONE HYDROCHLORIDE [Suspect]
     Active Substance: HYDROMORPHONE HYDROCHLORIDE
     Dosage: 96 MILLIGRAM, ONCE A DAY
     Route: 058
  226. HYDROMORPHONE HYDROCHLORIDE [Suspect]
     Active Substance: HYDROMORPHONE HYDROCHLORIDE
     Dosage: 17 MILLIGRAM, ONCE A DAY
     Route: 065
  227. HYDROMORPHONE HYDROCHLORIDE [Suspect]
     Active Substance: HYDROMORPHONE HYDROCHLORIDE
     Dosage: 6 MILLIGRAM, EVERY 4 HOURS (6MG, Q4HR)
     Route: 058
  228. HYDROMORPHONE HYDROCHLORIDE [Suspect]
     Active Substance: HYDROMORPHONE HYDROCHLORIDE
     Dosage: 1 MILLIGRAM, EVERY 6 DAYS
     Route: 058
  229. HYDROMORPHONE HYDROCHLORIDE [Suspect]
     Active Substance: HYDROMORPHONE HYDROCHLORIDE
     Dosage: 6 MILLIGRAM, EVERY 5 HOUR
     Route: 058
  230. HYDROMORPHONE HYDROCHLORIDE [Suspect]
     Active Substance: HYDROMORPHONE HYDROCHLORIDE
     Dosage: 24 MILLIGRAM, ONCE A DAY
     Route: 058
  231. HYDROMORPHONE HYDROCHLORIDE [Suspect]
     Active Substance: HYDROMORPHONE HYDROCHLORIDE
     Dosage: 4 MILLIGRAM, SIX TIMES A DAY
     Route: 058
  232. HYDROMORPHONE HYDROCHLORIDE [Suspect]
     Active Substance: HYDROMORPHONE HYDROCHLORIDE
     Dosage: UNK
  233. HYDROMORPHONE HYDROCHLORIDE [Suspect]
     Active Substance: HYDROMORPHONE HYDROCHLORIDE
     Dosage: 24 MILLIGRAM, ONCE A DAY
     Route: 058
  234. HYDROMORPHONE HYDROCHLORIDE [Suspect]
     Active Substance: HYDROMORPHONE HYDROCHLORIDE
     Dosage: 6 MILLIGRAM
     Route: 058
  235. HYDROMORPHONE HYDROCHLORIDE [Suspect]
     Active Substance: HYDROMORPHONE HYDROCHLORIDE
     Dosage: 1 MILLIGRAM, ONCE A DAY
     Route: 058
  236. INSULIN DEGLUDEC [Suspect]
     Active Substance: INSULIN DEGLUDEC
     Indication: Diabetes mellitus
     Dosage: 1 DOSAGE FORM, ONCE A DAY
     Route: 058
  237. INSULIN ASPART [Suspect]
     Active Substance: INSULIN ASPART
     Indication: Diabetes mellitus
     Dosage: UNK
     Route: 065
  238. INSULIN ASPART [Suspect]
     Active Substance: INSULIN ASPART
     Dosage: UNK
     Route: 065
  239. INSULIN ASPART [Suspect]
     Active Substance: INSULIN ASPART
     Dosage: UNK
     Route: 058
  240. INSULIN ASPART [Suspect]
     Active Substance: INSULIN ASPART
     Dosage: UNK
     Route: 058
  241. INSULIN ASPART [Suspect]
     Active Substance: INSULIN ASPART
     Dosage: UNK
     Route: 058
  242. INSULIN ASPART [Suspect]
     Active Substance: INSULIN ASPART
     Dosage: UNK
     Route: 058
  243. INSULIN ASPART [Suspect]
     Active Substance: INSULIN ASPART
     Dosage: UNK
     Route: 058
  244. INSULIN ASPART [Suspect]
     Active Substance: INSULIN ASPART
     Dosage: UNK
     Route: 058
  245. INSULIN ASPART [Suspect]
     Active Substance: INSULIN ASPART
     Dosage: UNK
     Route: 058
  246. INSULIN ASPART [Suspect]
     Active Substance: INSULIN ASPART
     Dosage: UNK
     Route: 048
  247. INSULIN ASPART [Suspect]
     Active Substance: INSULIN ASPART
     Dosage: UNK
     Route: 048
  248. INSULIN ASPART [Suspect]
     Active Substance: INSULIN ASPART
     Dosage: UNK
     Route: 048
  249. INSULIN ASPART [Suspect]
     Active Substance: INSULIN ASPART
     Dosage: UNK
     Route: 048
  250. INSULIN PORK\INSULIN PURIFIED PORK [Suspect]
     Active Substance: INSULIN PORK\INSULIN PURIFIED PORK
     Indication: Diabetes mellitus
     Dosage: UNK
     Route: 065
  251. IPRATROPIUM BROMIDE [Suspect]
     Active Substance: IPRATROPIUM BROMIDE\IPRATROPIUM BROMIDE ANHYDROUS
     Indication: Dyspnoea
     Dosage: UNK, ONCE A DAY (4 UNK, QD )
  252. IPRATROPIUM BROMIDE [Suspect]
     Active Substance: IPRATROPIUM BROMIDE\IPRATROPIUM BROMIDE ANHYDROUS
     Indication: Sleep disorder therapy
     Dosage: 1 DOSAGE FORM, FOUR TIMES/DAY
  253. IPRATROPIUM BROMIDE [Suspect]
     Active Substance: IPRATROPIUM BROMIDE\IPRATROPIUM BROMIDE ANHYDROUS
     Dosage: 1 DOSAGE FORM, ONCE A DAY
     Route: 055
  254. IPRATROPIUM BROMIDE [Suspect]
     Active Substance: IPRATROPIUM BROMIDE\IPRATROPIUM BROMIDE ANHYDROUS
     Dosage: 1 DOSAGE FORM, 3 TIMES A DAY
     Route: 065
  255. IPRATROPIUM BROMIDE [Suspect]
     Active Substance: IPRATROPIUM BROMIDE\IPRATROPIUM BROMIDE ANHYDROUS
     Dosage: UNK, QD
     Route: 050
  256. IPRATROPIUM BROMIDE [Suspect]
     Active Substance: IPRATROPIUM BROMIDE\IPRATROPIUM BROMIDE ANHYDROUS
     Dosage: UNK, 4 TIMES A DAY
     Route: 055
  257. IPRATROPIUM BROMIDE [Suspect]
     Active Substance: IPRATROPIUM BROMIDE\IPRATROPIUM BROMIDE ANHYDROUS
     Dosage: 4 DOSAGE FORM, ONCE A DAY
     Route: 055
  258. IPRATROPIUM BROMIDE [Suspect]
     Active Substance: IPRATROPIUM BROMIDE\IPRATROPIUM BROMIDE ANHYDROUS
     Dosage: UNK UNK, ONCE A DAY
     Route: 065
  259. IPRATROPIUM BROMIDE\XYLOMETAZOLINE HYDROCHLORIDE [Suspect]
     Active Substance: IPRATROPIUM BROMIDE\XYLOMETAZOLINE HYDROCHLORIDE
     Indication: Sleep disorder therapy
     Dosage: UNK, ONCE A DAY
     Route: 055
  260. IPRATROPIUM BROMIDE\XYLOMETAZOLINE HYDROCHLORIDE [Suspect]
     Active Substance: IPRATROPIUM BROMIDE\XYLOMETAZOLINE HYDROCHLORIDE
     Indication: Dyspnoea
     Dosage: UNK
     Route: 050
  261. IPRATROPIUM BROMIDE\XYLOMETAZOLINE HYDROCHLORIDE [Suspect]
     Active Substance: IPRATROPIUM BROMIDE\XYLOMETAZOLINE HYDROCHLORIDE
     Dosage: 1 DOSAGE FORM, ONCE A DAY
  262. HYDROMORPHONE HYDROCHLORIDE [Suspect]
     Active Substance: HYDROMORPHONE HYDROCHLORIDE
     Indication: Analgesic therapy
     Dosage: 24 MILLIGRAM, FOUR TIMES/DAY
     Route: 065
  263. HYDROMORPHONE HYDROCHLORIDE [Suspect]
     Active Substance: HYDROMORPHONE HYDROCHLORIDE
     Dosage: 96 MILLIGRAM, ONCE A DAY
     Route: 065
  264. HYDROMORPHONE HYDROCHLORIDE [Suspect]
     Active Substance: HYDROMORPHONE HYDROCHLORIDE
     Dosage: 6 MILLIGRAM, FOUR TIMES/DAY
     Route: 065
  265. HYDROMORPHONE HYDROCHLORIDE [Suspect]
     Active Substance: HYDROMORPHONE HYDROCHLORIDE
     Dosage: 6 MILLIGRAM, FOUR TIMES/DAY
     Route: 065
  266. HYDROMORPHONE HYDROCHLORIDE [Suspect]
     Active Substance: HYDROMORPHONE HYDROCHLORIDE
     Dosage: 17 DOSAGE FORM
     Route: 065
  267. HYDROMORPHONE HYDROCHLORIDE [Suspect]
     Active Substance: HYDROMORPHONE HYDROCHLORIDE
     Dosage: 4 MILLIGRAM EVERY 4 HOURS
     Route: 065
  268. HYDROMORPHONE HYDROCHLORIDE [Suspect]
     Active Substance: HYDROMORPHONE HYDROCHLORIDE
     Dosage: 6 MILLIGRAM,
     Route: 065
  269. HYDROMORPHONE HYDROCHLORIDE [Suspect]
     Active Substance: HYDROMORPHONE HYDROCHLORIDE
     Dosage: 1 MILLIGRAM, ONCE A DAY
     Route: 065
  270. LANSOPRAZOLE [Suspect]
     Active Substance: LANSOPRAZOLE
     Indication: Antacid therapy
     Dosage: 30 MILLIGRAM, ONCE A DAY
     Route: 048
  271. LANSOPRAZOLE [Suspect]
     Active Substance: LANSOPRAZOLE
     Dosage: 30 MILLIGRAM, ONCE A DAY
     Route: 048
  272. LANSOPRAZOLE [Suspect]
     Active Substance: LANSOPRAZOLE
     Dosage: 30 MILLIGRAM
     Route: 065
  273. LIDOCAINE [Suspect]
     Active Substance: LIDOCAINE
     Indication: Constipation
     Dosage: 133 MILLILITER
     Route: 054
  274. LUTEIN [Suspect]
     Active Substance: LUTEIN
     Indication: Nutritional supplementation
     Dosage: 12.5 GRAM, AS NECESSARY
     Route: 042
  275. LANTHANUM CARBONATE [Suspect]
     Active Substance: LANTHANUM CARBONATE
     Indication: Hyperphosphataemia
     Dosage: 500 MILLIGRAM, ONCE A DAY
     Route: 048
  276. LANTHANUM CARBONATE [Suspect]
     Active Substance: LANTHANUM CARBONATE
     Indication: Blood phosphorus increased
     Dosage: 550 MILLIGRAM, ONCE A DAY
     Route: 048
  277. LANTHANUM CARBONATE [Suspect]
     Active Substance: LANTHANUM CARBONATE
     Dosage: 500 MILLIGRAM
     Route: 048
  278. METRONIDAZOLE [Suspect]
     Active Substance: METRONIDAZOLE
     Indication: Bacterial infection
     Dosage: 500 MILLIGRAM, 3 TIMES A DAY
     Route: 048
  279. METRONIDAZOLE [Suspect]
     Active Substance: METRONIDAZOLE
     Dosage: 500 MILLIGRAM, ONCE A DAY
     Route: 048
  280. METRONIDAZOLE [Suspect]
     Active Substance: METRONIDAZOLE
     Dosage: 500 MILLIGRAM, 3 TIMES A DAY
     Route: 048
  281. METRONIDAZOLE [Suspect]
     Active Substance: METRONIDAZOLE
     Dosage: 1500 MILLIGRAM, ONCE A DAY
     Route: 048
  282. METAMIZOL [Suspect]
     Active Substance: METAMIZOLE SODIUM
     Indication: Vitamin supplementation
     Dosage: 5 MILLIGRAM, ONCE A DAY
     Route: 042
  283. MAGNESIUM TRISILICATE [Suspect]
     Active Substance: MAGNESIUM TRISILICATE
     Indication: Constipation
     Dosage: 113 MILLIGRAM, PM, AS NECESSARY
     Route: 065
  284. MAGNESIUM TRISILICATE [Suspect]
     Active Substance: MAGNESIUM TRISILICATE
     Dosage: 133 MILLILITER, AS NECESSARY
     Route: 065
  285. POLYETHYLENE GLYCOL 3350 [Suspect]
     Active Substance: POLYETHYLENE GLYCOL 3350
     Indication: Constipation
     Dosage: 17 MILLIGRAM, ONCE A DAY
     Route: 048
  286. POLYETHYLENE GLYCOL 3350 [Suspect]
     Active Substance: POLYETHYLENE GLYCOL 3350
     Indication: Off label use
     Dosage: 17 GRAM, ONCE A DAY
     Route: 048
  287. POLYETHYLENE GLYCOLS [Suspect]
     Active Substance: POLYETHYLENE GLYCOLS
     Indication: Constipation
     Dosage: 17 MILLIGRAM, ONCE A DAY
     Route: 048
  288. POLYETHYLENE GLYCOLS [Suspect]
     Active Substance: POLYETHYLENE GLYCOLS
     Dosage: 17 GRAM, ONCE A DAY
     Route: 048
  289. POLYETHYLENE GLYCOLS [Suspect]
     Active Substance: POLYETHYLENE GLYCOLS
     Dosage: UNK, ONCE A DAY
     Route: 048
  290. POLYETHYLENE GLYCOLS [Suspect]
     Active Substance: POLYETHYLENE GLYCOLS
     Dosage: 2.5 MILLILITER
     Route: 042
  291. POLYETHYLENE GLYCOLS [Suspect]
     Active Substance: POLYETHYLENE GLYCOLS
     Dosage: 3 MILLIGRAM, EVERY WEEK
     Route: 048
  292. POLYETHYLENE GLYCOL 4000 [Suspect]
     Active Substance: POLYETHYLENE GLYCOL 4000
     Indication: Constipation
     Dosage: 17 MILLIGRAM, ONCE A DAY
     Route: 048
  293. POLYETHYLENE GLYCOL 4000 [Suspect]
     Active Substance: POLYETHYLENE GLYCOL 4000
     Dosage: 17 GRAM, ONCE A DAY
     Route: 048
  294. POLYETHYLENE GLYCOL 4000 [Suspect]
     Active Substance: POLYETHYLENE GLYCOL 4000
     Dosage: 3 MILLIGRAM, EVERY WEEK
     Route: 048
  295. POLYETHYLENE GLYCOL 4000 [Suspect]
     Active Substance: POLYETHYLENE GLYCOL 4000
     Dosage: 2.5 MILLILITER
     Route: 042
  296. POLYETHYLENE GLYCOL 4000 [Suspect]
     Active Substance: POLYETHYLENE GLYCOL 4000
     Dosage: 1 DOSAGE FORM, FOUR TIMES/DAY(1 DF, Q6H )
     Route: 042
  297. MALTOSE [Suspect]
     Active Substance: MALTOSE
     Indication: Nutritional supplementation
     Dosage: 12.5 GRAM
     Route: 042
  298. MAALOX ANTACID [Suspect]
     Active Substance: ALUMINUM HYDROXIDE\DIMETHICONE\MAGNESIUM HYDROXIDE
     Indication: Constipation
     Dosage: 133 MILLILITER, AS NECESSARY
     Route: 054
  299. MANNITOL [Suspect]
     Active Substance: MANNITOL
     Indication: Nutritional supplementation
     Dosage: 12.5 GRAM
     Route: 042
  300. MELATONIN [Suspect]
     Active Substance: MELATONIN
     Indication: Sleep disorder therapy
     Dosage: 3 MILLIGRAM, ONCE A DAY
     Route: 048
  301. MELATONIN [Suspect]
     Active Substance: MELATONIN
     Dosage: UNK
     Route: 048
  302. MAGNESIUM OXIDE [Suspect]
     Active Substance: MAGNESIUM OXIDE
     Indication: Constipation
     Dosage: 133 MILLILITER, AS NECESSARY
     Route: 065
  303. METAMIZOLE SODIUM [Suspect]
     Active Substance: METAMIZOLE SODIUM
     Indication: Vitamin supplementation
     Dosage: 5 MILLIGRAM, ONCE A DAY
     Route: 065
  304. METAMIZOLE SODIUM [Suspect]
     Active Substance: METAMIZOLE SODIUM
     Dosage: 5 MILLIGRAM, ONCE A DAY
     Route: 042
  305. METAMIZOLE SODIUM [Suspect]
     Active Substance: METAMIZOLE SODIUM
     Dosage: UNK
     Route: 065
  306. MAGNESIUM OXIDE [Suspect]
     Active Substance: MAGNESIUM OXIDE
     Indication: Constipation
     Dosage: 133 MILLILITER, AS NECESSARY(133 MILLILITER, PRN )
     Route: 065
  307. NOVORAPID [Suspect]
     Active Substance: INSULIN ASPART
     Indication: Diabetes mellitus
     Dosage: UNK
     Route: 058
  308. NOREPINEPHRINE BITARTRATE [Suspect]
     Active Substance: NOREPINEPHRINE BITARTRATE
     Indication: Stress
     Dosage: 3 MILLIGRAM, ONCE A DAY
     Route: 048
  309. NOREPINEPHRINE BITARTRATE [Suspect]
     Active Substance: NOREPINEPHRINE BITARTRATE
     Dosage: UNK
     Route: 048
  310. NOREPINEPHRINE BITARTRATE [Suspect]
     Active Substance: NOREPINEPHRINE BITARTRATE
     Dosage: 1 DOSAGE FORM, ONCE A DAY
     Route: 048
  311. NOREPINEPHRINE [Suspect]
     Active Substance: NOREPINEPHRINE
     Indication: Stress
     Dosage: 3 MILLIGRAM
     Route: 042
  312. NOREPINEPHRINE [Suspect]
     Active Substance: NOREPINEPHRINE
     Dosage: 1 DOSAGE FORM, ONCE A DAY
     Route: 048
  313. NOREPINEPHRINE [Suspect]
     Active Substance: NOREPINEPHRINE
     Dosage: 3 MILLIGRAM
     Route: 048
  314. NOREPINEPHRINE [Suspect]
     Active Substance: NOREPINEPHRINE
     Dosage: 1 DOSAGE FORM, ONCE A DAY
     Route: 042
  315. NOREPINEPHRINE [Suspect]
     Active Substance: NOREPINEPHRINE
     Dosage: UNK
     Route: 042
  316. NOREPINEPHRINE [Suspect]
     Active Substance: NOREPINEPHRINE
     Dosage: UNK
     Route: 042
  317. NOREPINEPHRINE [Suspect]
     Active Substance: NOREPINEPHRINE
     Dosage: UNK
     Route: 065
  318. NOREPINEPHRINE [Suspect]
     Active Substance: NOREPINEPHRINE
     Dosage: UNK
     Route: 065
  319. NOREPINEPHRINE [Suspect]
     Active Substance: NOREPINEPHRINE
     Dosage: UNK
     Route: 065
  320. NOREPINEPHRINE [Suspect]
     Active Substance: NOREPINEPHRINE
     Dosage: UNK
     Route: 065
  321. METAMIZOLE SODIUM [Suspect]
     Active Substance: METAMIZOLE SODIUM
     Indication: Vitamin supplementation
     Dosage: 5 MILLIGRAM
     Route: 042
  322. CARBOHYDRATES\FATTY ACIDS\MINERALS\PROTEIN\VITAMINS [Suspect]
     Active Substance: CARBOHYDRATES\FATTY ACIDS\MINERALS\PROTEIN\VITAMINS
     Indication: Vitamin D
     Dosage: 5 MILLIGRAM, ONCE A DAY
     Route: 042
  323. CARBOHYDRATES\FATTY ACIDS\MINERALS\PROTEIN\VITAMINS [Suspect]
     Active Substance: CARBOHYDRATES\FATTY ACIDS\MINERALS\PROTEIN\VITAMINS
     Indication: Vitamin supplementation
     Dosage: 17 GRAM, ONCE A DAY
     Route: 048
  324. CARBOHYDRATES\FATTY ACIDS\MINERALS\PROTEIN\VITAMINS [Suspect]
     Active Substance: CARBOHYDRATES\FATTY ACIDS\MINERALS\PROTEIN\VITAMINS
     Indication: Constipation
     Dosage: 5 MILLIGRAM, AS NECESSARY
     Route: 042
  325. NOREPINEPHRINE BITARTRATE [Suspect]
     Active Substance: NOREPINEPHRINE BITARTRATE
     Indication: Stress
     Dosage: 3 MILLIGRAM, ONCE A DAY
     Route: 048
  326. NOREPINEPHRINE BITARTRATE [Suspect]
     Active Substance: NOREPINEPHRINE BITARTRATE
     Dosage: UNK, ONCE A DAY
     Route: 048
  327. DIETARY SUPPLEMENT [Suspect]
     Active Substance: DIETARY SUPPLEMENT
     Indication: Vitamin supplementation
     Dosage: 5 MILLIGRAM, ONCE A DAY
     Route: 042
  328. DIETARY SUPPLEMENT [Suspect]
     Active Substance: DIETARY SUPPLEMENT
     Indication: Intentional product misuse
     Dosage: 5 MILLIGRAM AS NECESSARY
     Route: 065
  329. DIETARY SUPPLEMENT [Suspect]
     Active Substance: DIETARY SUPPLEMENT
     Dosage: 17 MILLIGRAM, ONCE A DAY
     Route: 042
  330. OSELTAMIVIR PHOSPHATE [Suspect]
     Active Substance: OSELTAMIVIR PHOSPHATE
     Indication: Product used for unknown indication
     Dosage: 133 MILLILITER
     Route: 054
  331. OSELTAMIVIR PHOSPHATE [Suspect]
     Active Substance: OSELTAMIVIR PHOSPHATE
     Dosage: 133 UNK
     Route: 065
  332. OSELTAMIVIR PHOSPHATE [Suspect]
     Active Substance: OSELTAMIVIR PHOSPHATE
     Dosage: 12.5 MILLIGRAM
     Route: 042
  333. OTRIVIN [Suspect]
     Active Substance: XYLOMETAZOLINE
     Indication: Dyspnoea
     Dosage: UNK
  334. POTASSIUM CHLORATE [Suspect]
     Active Substance: POTASSIUM CHLORATE
     Indication: Constipation
     Dosage: UNK
     Route: 065
  335. POTASSIUM CHLORATE [Suspect]
     Active Substance: POTASSIUM CHLORATE
     Dosage: 17 MILLIGRAM, ONCE A DAY
     Route: 048
  336. PHYTONADIONE [Suspect]
     Active Substance: PHYTONADIONE
     Indication: Vitamin supplementation
     Dosage: 5 MILLIGRAM, AS NECESSARY
     Route: 042
  337. PHYTONADIONE [Suspect]
     Active Substance: PHYTONADIONE
     Dosage: 5 MILLIGRAM, ONCE A DAY
     Route: 017
  338. PHYTONADIONE [Suspect]
     Active Substance: PHYTONADIONE
     Dosage: 5 MILLIGRAM,ONCE A DAY
     Route: 017
  339. PHYTONADIONE [Suspect]
     Active Substance: PHYTONADIONE
     Dosage: 5 MILLIGRAM,
     Route: 017
  340. PHYTONADIONE [Suspect]
     Active Substance: PHYTONADIONE
     Dosage: 5 MILLIGRAM,
     Route: 042
  341. HERBALS\PAULLINIA CUPANA SEED [Suspect]
     Active Substance: HERBALS\PAULLINIA CUPANA SEED
     Indication: Nutritional supplementation
     Dosage: 12.5 MILLIGRAM
     Route: 042
  342. HERBALS\PAULLINIA CUPANA SEED [Suspect]
     Active Substance: HERBALS\PAULLINIA CUPANA SEED
     Dosage: UNK
     Route: 065
  343. HERBALS\PAULLINIA CUPANA SEED [Suspect]
     Active Substance: HERBALS\PAULLINIA CUPANA SEED
     Dosage: 17 MILLIGRAM
     Route: 048
  344. ACETAMINOPHEN [Suspect]
     Active Substance: ACETAMINOPHEN
     Indication: Analgesic therapy
     Dosage: 650 MILLIGRAM, ONCE A DAY
     Route: 048
  345. PREVACID [Suspect]
     Active Substance: LANSOPRAZOLE
     Indication: Antacid therapy
     Dosage: 30 MILLIGRAM, ONCE A DAY
     Route: 048
  346. POLYETHYLENE GLYCOL [Suspect]
     Active Substance: POLYETHYLENE GLYCOL
     Indication: Constipation
     Dosage: 17 GRAM, ONCE A DAY
     Route: 048
  347. POLYETHYLENE GLYCOL [Suspect]
     Active Substance: POLYETHYLENE GLYCOL
     Dosage: UNK UNK, ONCE A DAY
     Route: 048
  348. POLYETHYLENE GLYCOL [Suspect]
     Active Substance: POLYETHYLENE GLYCOL
     Dosage: 1 DOSAGE FORM,1 EVERY 6 HOUR
  349. POLYETHYLENE GLYCOL [Suspect]
     Active Substance: POLYETHYLENE GLYCOL
     Dosage: 3 MILLIGRAM, EVERY WEEK
     Route: 048
  350. POLYETHYLENE GLYCOL [Suspect]
     Active Substance: POLYETHYLENE GLYCOL
     Dosage: 2.5 MILLILITER
     Route: 042
  351. POLYETHYLENE GLYCOL [Suspect]
     Active Substance: POLYETHYLENE GLYCOL
     Dosage: 17 GRAM
     Route: 048
  352. POLYETHYLENE GLYCOL [Suspect]
     Active Substance: POLYETHYLENE GLYCOL
     Dosage: UNK UNK, ONCE A DAY
     Route: 048
  353. POLYETHYLENE GLYCOL [Suspect]
     Active Substance: POLYETHYLENE GLYCOL
     Dosage: 17 GRAM, ONCE A DAY
     Route: 048
  354. PHYTONADIONE [Suspect]
     Active Substance: PHYTONADIONE
     Indication: Vitamin supplementation
     Dosage: 5 MILLIGRAM, AS NECESSARY
     Route: 017
  355. PHYTONADIONE [Suspect]
     Active Substance: PHYTONADIONE
     Dosage: 5 MILLIGRAM, ONCE A DAY
     Route: 017
  356. PHYTONADIONE [Suspect]
     Active Substance: PHYTONADIONE
     Dosage: 5 MILLIGRAM, AS NECESSARY
     Route: 042
  357. PHYTONADIONE [Suspect]
     Active Substance: PHYTONADIONE
     Dosage: 5 MILLIGRAM, ONCE A DAY
     Route: 042
  358. PROPYLENE GLYCOL [Suspect]
     Active Substance: PROPYLENE GLYCOL
     Indication: Product used for unknown indication
  359. POTASSIUM CHLORIDE [Suspect]
     Active Substance: POTASSIUM CHLORIDE
     Indication: Constipation
     Dosage: UNK
     Route: 065
  360. POTASSIUM CHLORIDE [Suspect]
     Active Substance: POTASSIUM CHLORIDE
     Dosage: 17 GRAM, ONCE A DAY
     Route: 048
  361. PYRIDOXINE HYDROCHLORIDE [Suspect]
     Active Substance: PYRIDOXINE HYDROCHLORIDE
     Indication: Constipation
     Dosage: 10 MILLIGRAM, AS NECESSARY
     Route: 065
  362. PYRIDOXINE HYDROCHLORIDE [Suspect]
     Active Substance: PYRIDOXINE HYDROCHLORIDE
     Indication: Vitamin supplementation
     Dosage: UNK UNK, FOUR TIMES/DAY
     Route: 065
  363. PYRIDOXINE HYDROCHLORIDE [Suspect]
     Active Substance: PYRIDOXINE HYDROCHLORIDE
     Indication: Analgesic therapy
     Dosage: 10 MILLIGRAM, ONCE A DAY
     Route: 065
  364. PYRIDOXINE HYDROCHLORIDE [Suspect]
     Active Substance: PYRIDOXINE HYDROCHLORIDE
     Dosage: 10 MILLIGRAM
     Route: 065
  365. PYRIDOXINE HYDROCHLORIDE [Suspect]
     Active Substance: PYRIDOXINE HYDROCHLORIDE
     Dosage: UNK
     Route: 048
  366. PYRIDOXINE HYDROCHLORIDE [Suspect]
     Active Substance: PYRIDOXINE HYDROCHLORIDE
     Dosage: UNK
     Route: 048
  367. PYRIDOXINE HYDROCHLORIDE [Suspect]
     Active Substance: PYRIDOXINE HYDROCHLORIDE
     Dosage: UNK
     Route: 048
  368. PYRIDOXINE HYDROCHLORIDE [Suspect]
     Active Substance: PYRIDOXINE HYDROCHLORIDE
     Dosage: UNK
     Route: 048
  369. PYRIDOXINE HYDROCHLORIDE [Suspect]
     Active Substance: PYRIDOXINE HYDROCHLORIDE
     Dosage: UNK
     Route: 048
  370. PYRIDOXINE HYDROCHLORIDE [Suspect]
     Active Substance: PYRIDOXINE HYDROCHLORIDE
     Dosage: UNK
     Route: 048
  371. VITAMIN B6 [Suspect]
     Active Substance: PYRIDOXINE HYDROCHLORIDE
     Indication: Vitamin supplementation
     Dosage: UNK, ONCE A DAY
     Route: 048
  372. VITAMIN B6 [Suspect]
     Active Substance: PYRIDOXINE HYDROCHLORIDE
     Indication: Analgesic therapy
     Dosage: 4 DOSAGE FORM, ONCE A DAY
     Route: 048
  373. VITAMIN B6 [Suspect]
     Active Substance: PYRIDOXINE HYDROCHLORIDE
     Indication: Constipation
     Dosage: UNK, FOUR TIMES/DAY
     Route: 065
  374. VITAMIN B6 [Suspect]
     Active Substance: PYRIDOXINE HYDROCHLORIDE
     Dosage: UNK
     Route: 048
  375. VITAMIN B6 [Suspect]
     Active Substance: PYRIDOXINE HYDROCHLORIDE
     Dosage: 10 MILLIGRAM 1 AS NECESSARY
     Route: 065
  376. ALBUTEROL [Suspect]
     Active Substance: ALBUTEROL
     Indication: Chronic obstructive pulmonary disease
     Dosage: 4 DOSAGE FORM, ONCE A DAY
  377. ALBUTEROL [Suspect]
     Active Substance: ALBUTEROL
     Dosage: 1 DOSAGE FORM, FOUR TIMES/DAY(FOUR TIMES/DAY, 6 HOUR)
  378. ALBUTEROL [Suspect]
     Active Substance: ALBUTEROL
     Dosage: UNK,  EVERY6 HOUR
     Route: 055
  379. ALBUTEROL [Suspect]
     Active Substance: ALBUTEROL
     Dosage: ONCE A DAY
     Route: 055
  380. ALBUTEROL [Suspect]
     Active Substance: ALBUTEROL
     Dosage: 4 DOSAGE FORM, FOUR TIMES/DAY
  381. ALBUTEROL [Suspect]
     Active Substance: ALBUTEROL
     Dosage: UNK
     Route: 006
  382. ALBUTEROL [Suspect]
     Active Substance: ALBUTEROL
     Dosage: UNK
  383. ALBUTEROL [Suspect]
     Active Substance: ALBUTEROL
     Dosage: UNK
  384. ALBUTEROL [Suspect]
     Active Substance: ALBUTEROL
     Dosage: UNK
  385. ALBUTEROL [Suspect]
     Active Substance: ALBUTEROL
     Dosage: UNK,1 EVERY 6 HOURS
     Route: 050
  386. SODIUM [Suspect]
     Active Substance: SODIUM
     Indication: Iron deficiency
     Dosage: 4.64 MILLIGRAM EVERY 4 WEEKS
     Route: 042
  387. SODIUM CITRATE [Suspect]
     Active Substance: SODIUM CITRATE
     Indication: Thrombosis
     Dosage: 2.5 MILLILITER, AS NECESSARY PRN (4GM/100ML SOLUTION UNASSIGNED)
     Route: 065
  388. SODIUM CITRATE [Suspect]
     Active Substance: SODIUM CITRATE
     Indication: Anticoagulant therapy
     Dosage: 2.5 MILLIGRAM, ONCE A DAY
     Route: 065
  389. SODIUM CITRATE [Suspect]
     Active Substance: SODIUM CITRATE
     Dosage: 2 GRAM, ONCE A DAY
     Route: 065
  390. SODIUM PHOSPHATE, MONOBASIC [Suspect]
     Active Substance: SODIUM PHOSPHATE, MONOBASIC
     Indication: Constipation
     Dosage: 133 MILLILITER, AS REQUIRED (133 MILLILITER, PRN)
     Route: 054
  391. SODIUM PHOSPHATE, MONOBASIC [Suspect]
     Active Substance: SODIUM PHOSPHATE, MONOBASIC
     Dosage: 133 MILLIGRAM
     Route: 054
  392. SODIUM PHOSPHATE, MONOBASIC [Suspect]
     Active Substance: SODIUM PHOSPHATE, MONOBASIC
     Dosage: 10 MILLILITER,1 AS NECESSARY
     Route: 054
  393. SODIUM PICOSULFATE [Suspect]
     Active Substance: SODIUM PICOSULFATE
     Indication: Constipation
     Dosage: 10 MILLIGRAM, AS NECESSARY
     Route: 054
  394. SODIUM PICOSULFATE [Suspect]
     Active Substance: SODIUM PICOSULFATE
     Indication: Analgesic therapy
     Dosage: 10 MILLIGRAM, AS NECESSARY
     Route: 065
  395. SODIUM PICOSULFATE [Suspect]
     Active Substance: SODIUM PICOSULFATE
     Dosage: 12.5 GRAM,1 MONTH
     Route: 065
  396. SODIUM PICOSULFATE [Suspect]
     Active Substance: SODIUM PICOSULFATE
     Dosage: 12.5 MILLIGRAM AS NECESSARY
     Route: 065
  397. SODIUM PICOSULFATE [Suspect]
     Active Substance: SODIUM PICOSULFATE
     Dosage: 10 MILLIGRAM,
     Route: 065
  398. SUCROSE [Suspect]
     Active Substance: SUCROSE
     Indication: Iron deficiency
     Dosage: 125 MILLIGRAM, 4 TIMES A WEEK (125 MILLIGRAM, Q4WEEKS)
     Route: 042
  399. TRELEGY ELLIPTA [Suspect]
     Active Substance: FLUTICASONE FUROATE\UMECLIDINIUM BROMIDE\VILANTEROL TRIFENATATE
     Indication: Product used for unknown indication
     Dosage: UNK
     Route: 055
  400. TRELEGY ELLIPTA [Suspect]
     Active Substance: FLUTICASONE FUROATE\UMECLIDINIUM BROMIDE\VILANTEROL TRIFENATATE
     Dosage: UNK
  401. TRESIBA [Suspect]
     Active Substance: INSULIN DEGLUDEC
     Indication: Diabetes mellitus
     Dosage: UNK
     Route: 058
  402. TRESIBA [Suspect]
     Active Substance: INSULIN DEGLUDEC
     Dosage: 1 DOSAGE FORM, ONCE A DAY
     Route: 058
  403. UMECLIDINIUM [Suspect]
     Active Substance: UMECLIDINIUM
     Indication: Dyspnoea
     Dosage: 1 INTERNATIONAL UNIT, ONCE A DAY
     Route: 048
  404. UMECLIDINIUM BROMIDE\VILANTEROL TRIFENATATE [Suspect]
     Active Substance: UMECLIDINIUM BROMIDE\VILANTEROL TRIFENATATE
     Indication: Dyspnoea
     Dosage: 1 INTERNATIONAL UNIT, ONCE A DAY
     Route: 048
  405. UMECLIDINIUM BROMIDE\VILANTEROL TRIFENATATE [Suspect]
     Active Substance: UMECLIDINIUM BROMIDE\VILANTEROL TRIFENATATE
     Dosage: 1 INTERNATIONAL UNIT
     Route: 048
  406. UMECLIDINIUM BROMIDE [Suspect]
     Active Substance: UMECLIDINIUM BROMIDE
     Indication: Dyspnoea
     Dosage: 1 INTERNATIONAL UNIT, ONCE A DAY
     Route: 048
  407. UMECLIDINIUM BROMIDE [Suspect]
     Active Substance: UMECLIDINIUM BROMIDE
     Dosage: 1 DOSAGE FORM
     Route: 048
  408. VASOPRESSIN [Suspect]
     Active Substance: VASOPRESSIN
     Indication: Drug therapy
     Dosage: UNK
     Route: 042
  409. VASOPRESSIN [Suspect]
     Active Substance: VASOPRESSIN
     Dosage: 50 MILLILITER, ONCE A DAY
     Route: 042
  410. VASOPRESSIN [Suspect]
     Active Substance: VASOPRESSIN
     Dosage: 250 MILLILITER, ONCE A DAY
     Route: 042
  411. VASOPRESSIN [Suspect]
     Active Substance: VASOPRESSIN
     Dosage: 1 INTERNATIONAL UNIT, ONCE A DAY
     Route: 065
  412. VASOPRESSIN [Suspect]
     Active Substance: VASOPRESSIN
     Dosage: UNK (THERAPY START DATE ASKU, THERAPY END DATE ASKU )
     Route: 065
  413. VILANTEROL TRIFENATATE [Suspect]
     Active Substance: VILANTEROL TRIFENATATE
     Indication: Dyspnoea
     Dosage: 1 INTERNATIONAL UNIT, ONCE A DAY
     Route: 048
  414. VITAMIN C [Suspect]
     Active Substance: ASCORBIC ACID
     Indication: Constipation
     Dosage: 17 GRAM, ONCE A DAY
     Route: 048
  415. VITAMIN C [Suspect]
     Active Substance: ASCORBIC ACID
     Dosage: 17 MILLIGRAM, ONCE A DAY
     Route: 048
  416. VITAMIN K1 [Suspect]
     Active Substance: PHYTONADIONE
     Indication: Vitamin supplementation
     Dosage: 5 MILLIGRAM, ONCE A DAY
     Route: 042
  417. VITAMIN K1 [Suspect]
     Active Substance: PHYTONADIONE
     Dosage: 5 MILLIGRAM
     Route: 042
  418. VITAMIN K1 [Suspect]
     Active Substance: PHYTONADIONE
     Dosage: 5 MILLIGRAM
     Route: 042
  419. VITAMIN E [Suspect]
     Active Substance: .ALPHA.-TOCOPHEROL
     Indication: Product used for unknown indication
     Dosage: 12.5 GRAM
     Route: 042
  420. WARFARIN [Suspect]
     Active Substance: WARFARIN
     Indication: Thrombosis
     Dosage: UNK
     Route: 048
  421. WARFARIN [Suspect]
     Active Substance: WARFARIN
     Dosage: 2 GRAM, ONCE A DAY
     Route: 048
  422. WARFARIN [Suspect]
     Active Substance: WARFARIN
     Dosage: 2 MILLILITER, ONCE A DAY
     Route: 048
  423. WARFARIN [Suspect]
     Active Substance: WARFARIN
     Dosage: 2 MILLIGRAM, ONCE A DAY
     Route: 065
  424. WARFARIN [Suspect]
     Active Substance: WARFARIN
     Dosage: 2 GRAM, ONCE A DAY
     Route: 048
  425. WARFARIN [Suspect]
     Active Substance: WARFARIN
     Dosage: 2 MILLILITER
     Route: 048
  426. WARFARIN [Suspect]
     Active Substance: WARFARIN
     Dosage: 2 MILLIGRAM
     Route: 048
  427. XANTOFYL PALMITATE [Suspect]
     Active Substance: XANTOFYL PALMITATE
     Indication: Nutritional supplementation
     Dosage: 5 MILLIGRAM, ONCE A DAY,QD
     Route: 042
  428. XANTOFYL PALMITATE [Suspect]
     Active Substance: XANTOFYL PALMITATE
     Dosage: 12.5 GRAM, PRN
     Route: 042
  429. XANTOFYL PALMITATE [Suspect]
     Active Substance: XANTOFYL PALMITATE
     Dosage: UNK
     Route: 065
  430. XYLOMETAZOLINE [Suspect]
     Active Substance: XYLOMETAZOLINE
     Indication: Dyspnoea
     Dosage: 1 DOSAGE FORM, ONCE A DAY
     Route: 065
  431. XYLOMETAZOLINE [Suspect]
     Active Substance: XYLOMETAZOLINE
     Dosage: UNK
     Route: 055
  432. ALOE VERA LEAF [Suspect]
     Active Substance: ALOE VERA LEAF
     Indication: Constipation
     Dosage: UNK
     Route: 065
  433. ZOCOR [Suspect]
     Active Substance: SIMVASTATIN
     Indication: Blood cholesterol increased
     Dosage: 40 MILLIGRAM, ONCE A DAY
     Route: 048
  434. HERBALS\PAULLINIA CUPANA SEED [Suspect]
     Active Substance: HERBALS\PAULLINIA CUPANA SEED
     Indication: Product used for unknown indication
     Dosage: 12.5 MILLIGRAM
     Route: 042
  435. HERBALS\PAULLINIA CUPANA SEED [Suspect]
     Active Substance: HERBALS\PAULLINIA CUPANA SEED
     Dosage: 17 MILLIGRAM
     Route: 042
  436. HERBALS\PAULLINIA CUPANA SEED [Suspect]
     Active Substance: HERBALS\PAULLINIA CUPANA SEED
     Dosage: UNK
     Route: 065
  437. BISMUTH SUBSALICYLATE [Suspect]
     Active Substance: BISMUTH SUBSALICYLATE
     Indication: Product used for unknown indication
     Dosage: 133 MILLILITER
     Route: 065
  438. AMLODIPINE [Concomitant]
     Active Substance: AMLODIPINE BESYLATE
     Indication: Analgesic therapy
     Dosage: UNK
     Route: 065
  439. ARANESP [Suspect]
     Active Substance: DARBEPOETIN ALFA
     Indication: Anaemia
     Dosage: 10 MILLIGRAM, 1 EVERY 2 WEEKS
     Route: 042
  440. ARANESP [Suspect]
     Active Substance: DARBEPOETIN ALFA
     Dosage: 0.71 MICROGRAM, EVERY 2 WEEK
     Route: 042
  441. ARANESP [Suspect]
     Active Substance: DARBEPOETIN ALFA
     Dosage: 1.42 MICROGRAM, EVERY WEEK (0.71 MICROGRAM, 2/WEEK)
     Route: 042
  442. ARANESP [Suspect]
     Active Substance: DARBEPOETIN ALFA
     Dosage: 0.75 MICROGRAM EVERY 2 WEEK
     Route: 042
  443. ARANESP [Suspect]
     Active Substance: DARBEPOETIN ALFA
     Dosage: 10 MICROGRAM, CYCLICAL
     Route: 042
  444. ARANESP [Suspect]
     Active Substance: DARBEPOETIN ALFA
     Dosage: 0.714 MICROGRAM, QOW
     Route: 042
  445. ARANESP [Suspect]
     Active Substance: DARBEPOETIN ALFA
     Dosage: 0.71 MICROGRAM, EVERY WEEK (0.71 MICROGRAM, 1/WEEK)
     Route: 042
  446. ARANESP [Suspect]
     Active Substance: DARBEPOETIN ALFA
     Dosage: 20 MILLIGRAM, EVERY WEEK (20 MILLIGRAM, 1/WEEK)
     Route: 042
  447. ARANESP [Suspect]
     Active Substance: DARBEPOETIN ALFA
     Dosage: 0.71 MICROGRAM, ONCE A DAY(0.71 MICROGRAM, QD)
     Route: 042
  448. ARANESP [Suspect]
     Active Substance: DARBEPOETIN ALFA
     Dosage: 20 MICROGRAM, EVERY WEEK
     Route: 042
  449. ARANESP [Suspect]
     Active Substance: DARBEPOETIN ALFA
     Dosage: 10 MICROGRAM, AS NECESSARY
     Route: 042
  450. ARANESP [Suspect]
     Active Substance: DARBEPOETIN ALFA
     Dosage: 10 MILLIGRAM, ONCE EVERY 1 WEEK
     Route: 065
  451. ATROVENT [Concomitant]
     Active Substance: IPRATROPIUM BROMIDE
     Indication: Dyspnoea
     Dosage: 1 DOSAGE FORM, FOUR TIMES/DAY
     Route: 065
  452. ATROVENT [Concomitant]
     Active Substance: IPRATROPIUM BROMIDE
     Indication: Sleep disorder therapy
     Dosage: UNK UNK, 3 TIMES A DAY
     Route: 065
  453. .BETA.-CAROTENE [Concomitant]
     Active Substance: .BETA.-CAROTENE
     Indication: Nutritional supplementation
     Dosage: 12.5 GRAM AS NECCESARY
     Route: 065
  454. CALCITRIOL [Concomitant]
     Active Substance: CALCITRIOL
     Indication: Product used for unknown indication
     Dosage: 0.25 MICROGRAM, ONCE A DAY
     Route: 065
  455. CALCITRIOL [Concomitant]
     Active Substance: CALCITRIOL
     Indication: Vitamin D
  456. CALCITRIOL [Concomitant]
     Active Substance: CALCITRIOL
     Indication: Hypovitaminosis
  457. CHOLECALCIFEROL [Concomitant]
     Active Substance: CHOLECALCIFEROL
     Indication: Product used for unknown indication
     Dosage: UNK
     Route: 065
  458. DOBUTAMINE [Concomitant]
     Active Substance: DOBUTAMINE HYDROCHLORIDE
     Indication: Cardiogenic shock
     Dosage: UNK
     Route: 065
  459. DOBUTAMINE HYDROCHLORIDE [Concomitant]
     Active Substance: DOBUTAMINE HYDROCHLORIDE
     Indication: Cardiogenic shock
     Dosage: 1 INTERNATIONAL UNIT, ONCE A DAY
     Route: 048
  460. BISACODYL [Concomitant]
     Active Substance: BISACODYL
     Indication: Constipation
     Dosage: 10 MILLIGRAM,PRN
     Route: 054
  461. BISACODYL [Concomitant]
     Active Substance: BISACODYL
     Dosage: 10 MILLIGRAM, ONCE A DAY
     Route: 054
  462. DULCOLAX SP [Concomitant]
     Indication: Constipation
     Dosage: 10 MILLIGRAM, ONCE A DAY
     Route: 065
  463. DULCOLAX SP [Concomitant]
     Dosage: 10 MILLIGRAM AS NECESSARY
     Route: 065
  464. DISODIUM HYDROGEN CITRATE [Concomitant]
     Active Substance: DISODIUM HYDROGEN CITRATE
     Indication: Anticoagulant therapy
     Dosage: 2.5 MILLILITER (NECESSARY 4GM/100ML SOLUTION UNASSIGNED ANTICOAGULANT )
     Route: 065
  465. DISODIUM HYDROGEN CITRATE [Concomitant]
     Active Substance: DISODIUM HYDROGEN CITRATE
     Indication: Thrombosis
  466. DEXTROSE [Concomitant]
     Active Substance: DEXTROSE\DEXTROSE MONOHYDRATE
     Indication: Nutritional supplementation
     Dosage: 12.5 MILLIGRAM, ONCE A DAY
     Route: 065
  467. DEXTROSE [Concomitant]
     Active Substance: DEXTROSE\DEXTROSE MONOHYDRATE
     Dosage: 12.5 GRAM, ONCE A DAY
     Route: 065
  468. DEXTROSE [Concomitant]
     Active Substance: DEXTROSE\DEXTROSE MONOHYDRATE
     Dosage: 12.5 GRAM, AS NECESSARY
     Route: 065
  469. HYDROMORPHONE [Suspect]
     Active Substance: HYDROMORPHONE
     Indication: Analgesic therapy
     Dosage: 24 MILLIGRAM, FOUR TIMES/DAY (6 MILLIGRAM, QID)
     Route: 058
  470. HYDROMORPHONE [Suspect]
     Active Substance: HYDROMORPHONE
     Dosage: 1 MILLIGRAM, EVERY 4 HOURS (1 MG, Q4HR)
     Route: 058
  471. HYDROMORPHONE [Suspect]
     Active Substance: HYDROMORPHONE
     Dosage: 1 MILLIGRAM, ONCE A DAY
     Route: 058
  472. HYDROMORPHONE [Suspect]
     Active Substance: HYDROMORPHONE
     Dosage: 24 MILLIGRAM, EVERY 6 HOURS (24 MILLIGRAM, Q6HR)
     Route: 058
  473. HYDROMORPHONE [Suspect]
     Active Substance: HYDROMORPHONE
     Dosage: 6 UNK
     Route: 058
  474. HYDROMORPHONE HYDROCHLORIDE [Suspect]
     Active Substance: HYDROMORPHONE HYDROCHLORIDE
     Indication: Analgesic therapy
     Dosage: 6 MILLIGRAM, ONCE A DAY
     Route: 065
  475. HYDROMORPHONE HYDROCHLORIDE [Suspect]
     Active Substance: HYDROMORPHONE HYDROCHLORIDE
     Dosage: 6 MILLIGRAM, FOUR TIMES/DAY
     Route: 058
  476. HYDROMORPHONE HYDROCHLORIDE [Suspect]
     Active Substance: HYDROMORPHONE HYDROCHLORIDE
     Dosage: 96 MILLIGRAM, ONCE A DAY
     Route: 058
  477. HYDROMORPHONE HYDROCHLORIDE [Suspect]
     Active Substance: HYDROMORPHONE HYDROCHLORIDE
     Dosage: 1 MILLIGRAM
     Route: 058
  478. POTASSIUM CHLORIDE\RIBOFLAVIN 5^-PHOSPHATE SODIUM [Concomitant]
     Active Substance: POTASSIUM CHLORIDE\RIBOFLAVIN 5^-PHOSPHATE SODIUM
     Indication: Constipation
     Dosage: 17 GRAM, ONCE A DAY
     Route: 048
  479. POTASSIUM CHLORIDE\RIBOFLAVIN 5^-PHOSPHATE SODIUM [Concomitant]
     Active Substance: POTASSIUM CHLORIDE\RIBOFLAVIN 5^-PHOSPHATE SODIUM
     Indication: Product used for unknown indication
     Dosage: UNK
     Route: 065
  480. POTASSIUM CHLORIDE\RIBOFLAVIN 5^-PHOSPHATE SODIUM [Concomitant]
     Active Substance: POTASSIUM CHLORIDE\RIBOFLAVIN 5^-PHOSPHATE SODIUM
     Dosage: 17 GRAM, ONCE A DAY
     Route: 048
  481. POTASSIUM CHLORIDE [Concomitant]
     Active Substance: POTASSIUM CHLORIDE
     Indication: Constipation
     Dosage: 17 GRAM, ONCE A DAY
     Route: 065
  482. PYRIDOXINE HYDROCHLORIDE [Concomitant]
     Active Substance: PYRIDOXINE HYDROCHLORIDE
     Indication: Vitamin supplementation
     Dosage: UNK UNK, ONCE A DAY
     Route: 065
  483. RIBOFLAVIN 5^-PHOSPHATE SODIUM ANHYDROUS [Concomitant]
     Active Substance: RIBOFLAVIN 5^-PHOSPHATE SODIUM ANHYDROUS
     Indication: Product used for unknown indication
     Dosage: UNK
     Route: 065
  484. RIBOFLAVIN 5^-PHOSPHATE SODIUM ANHYDROUS [Concomitant]
     Active Substance: RIBOFLAVIN 5^-PHOSPHATE SODIUM ANHYDROUS
     Dosage: 17 GRAM, ONCE A DAY
     Route: 048
  485. SIMVASTATIN [Concomitant]
     Active Substance: SIMVASTATIN
     Indication: Blood cholesterol increased
     Dosage: 40 MILLIGRAM, ONCE A DAY
     Route: 048
  486. SIMVASTATIN [Concomitant]
     Active Substance: SIMVASTATIN
     Indication: Blood cholesterol increased
     Dosage: 40 MILLIGRAM, ONCE A DAY
     Route: 065
  487. SODIUM PICOSULFATE [Concomitant]
     Active Substance: SODIUM PICOSULFATE
     Indication: Analgesic therapy
     Dosage: 10 MILLIGRAM, AS NECESSARY
     Route: 065
  488. SODIUM PICOSULFATE [Concomitant]
     Active Substance: SODIUM PICOSULFATE
     Indication: Constipation
  489. ALBUTEROL SULFATE [Concomitant]
     Active Substance: ALBUTEROL SULFATE
     Indication: Chronic obstructive pulmonary disease
     Dosage: UNK, ONCE A DAY (PER 6 HOURS)
     Route: 065
  490. SODIUM PHOSPHATE, MONOBASIC [Concomitant]
     Active Substance: SODIUM PHOSPHATE, MONOBASIC
     Indication: Constipation
     Dosage: 133 MILLILITER AS NECESSARY
     Route: 065
  491. VITAMIN D [Concomitant]
     Active Substance: VITAMIN D NOS
     Indication: Product used for unknown indication
     Dosage: UNK
     Route: 065
  492. VITAMIN C [Concomitant]
     Active Substance: ASCORBIC ACID
     Indication: Product used for unknown indication
     Dosage: UNK
     Route: 065
  493. WARFARIN [Concomitant]
     Active Substance: WARFARIN
     Indication: Thrombosis
     Dosage: 2 GRAM, ONCE A DAY
     Route: 065
  494. FLUTICASONE FUROATE [Suspect]
     Active Substance: FLUTICASONE FUROATE
     Indication: Nutritional supplementation
     Dosage: UNK
     Route: 048
  495. FLUTICASONE FUROATE [Suspect]
     Active Substance: FLUTICASONE FUROATE
     Indication: Blood phosphorus increased
  496. BREO ELLIPTA [Suspect]
     Active Substance: FLUTICASONE FUROATE\VILANTEROL TRIFENATATE
     Indication: Nutritional supplementation
     Dosage: 1 INTERNATIONAL UNIT, ONCE A DAY
     Route: 065
  497. BREO ELLIPTA [Suspect]
     Active Substance: FLUTICASONE FUROATE\VILANTEROL TRIFENATATE
     Indication: Dyspnoea
  498. BREO ELLIPTA [Suspect]
     Active Substance: FLUTICASONE FUROATE\VILANTEROL TRIFENATATE
     Indication: Blood phosphorus increased
  499. CEFTRIAXONE SODIUM [Suspect]
     Active Substance: CEFTRIAXONE SODIUM
     Indication: Bacterial infection
     Dosage: 2 GRAM, ONCE A DAY
     Route: 030
  500. CEFTRIAXONE SODIUM [Suspect]
     Active Substance: CEFTRIAXONE SODIUM
     Indication: Sepsis
  501. COUMADIN [Suspect]
     Active Substance: WARFARIN SODIUM
     Indication: Thrombosis
     Dosage: 2 GRAM, ONCE A DAY
     Route: 048
  502. DIETARY SUPPLEMENT [Suspect]
     Active Substance: DIETARY SUPPLEMENT
     Indication: Product used for unknown indication
     Dosage: 5 MILLIGRAM, ONCE A DAY
     Route: 065
  503. HERBALS\PLANTAGO OVATA SEED COAT [Suspect]
     Active Substance: HERBALS\PLANTAGO OVATA SEED COAT
     Indication: Vitamin supplementation
     Dosage: 5 MILLIGRAM, ONCE A DAY
     Route: 042
  504. PANAX GINSENG WHOLE [Suspect]
     Active Substance: PANAX GINSENG WHOLE
     Indication: Nutritional supplementation
     Dosage: 12 MILLIGRAM
     Route: 065
  505. LYPRESSIN [Suspect]
     Active Substance: LYPRESSIN
     Indication: Drug therapy
     Dosage: UNK
     Route: 042
  506. AMLODIPINE MALEATE [Concomitant]
     Active Substance: AMLODIPINE MALEATE
     Indication: Product used for unknown indication
     Dosage: UNK
     Route: 065
  507. TAMIFLU [Suspect]
     Active Substance: OSELTAMIVIR PHOSPHATE
     Indication: Chronic obstructive pulmonary disease
     Dosage: 12.5 MILLIGRAM
     Route: 065
  508. TAMIFLU [Suspect]
     Active Substance: OSELTAMIVIR PHOSPHATE
     Dosage: 133 MILLIGRAM
     Route: 065
  509. ERGOCALCIFEROL [Concomitant]
     Active Substance: ERGOCALCIFEROL
     Indication: Product used for unknown indication
     Dosage: UNK
     Route: 065

REACTIONS (47)
  - Somnolence [Fatal]
  - Death [Fatal]
  - Cardiogenic shock [Fatal]
  - General physical health deterioration [Fatal]
  - Multiple organ dysfunction syndrome [Fatal]
  - Abdominal distension [Fatal]
  - Appendicitis [Fatal]
  - Vomiting [Fatal]
  - Abdominal pain [Fatal]
  - Appendicolith [Fatal]
  - Ascites [Fatal]
  - Constipation [Fatal]
  - Hyponatraemia [Fatal]
  - Sepsis [Fatal]
  - Nausea [Fatal]
  - Stress [Fatal]
  - Ventricular fibrillation [Fatal]
  - Blood phosphorus increased [Fatal]
  - Condition aggravated [Fatal]
  - Dry mouth [Fatal]
  - Myasthenia gravis [Fatal]
  - Blood cholesterol increased [Fatal]
  - Blood uric acid increased [Fatal]
  - Dyspnoea [Fatal]
  - Neuralgia [Fatal]
  - Diabetes mellitus [Fatal]
  - Drug therapy [Fatal]
  - Drug intolerance [Fatal]
  - Drug hypersensitivity [Fatal]
  - Iron deficiency [Fatal]
  - Swelling [Fatal]
  - Bacterial infection [Fatal]
  - Pulmonary embolism [Fatal]
  - Myasthenia gravis [Fatal]
  - Somnolence [Fatal]
  - Analgesic therapy [Fatal]
  - Sleep disorder therapy [Fatal]
  - Thrombosis [Fatal]
  - Chronic obstructive pulmonary disease [Fatal]
  - Hyponatraemia [Fatal]
  - Hyperphosphataemia [Fatal]
  - Anaemia [Fatal]
  - Hypophosphataemia [Fatal]
  - Sleep disorder [Fatal]
  - Intentional product misuse [Fatal]
  - Incorrect route of product administration [Fatal]
  - Off label use [Fatal]

NARRATIVE: CASE EVENT DATE: 20200101
